FAERS Safety Report 21561346 (Version 11)
Quarter: 2025Q3

REPORT INFORMATION
  Report Type: Spontaneous
  Country: CA (occurrence: CA)
  Receive Date: 20221107
  Receipt Date: 20250824
  Transmission Date: 20251021
  Serious: Yes (Death, Other)
  Sender: BRISTOL-MYERS SQUIBB COMPANY
  Company Number: CA-BRISTOL-MYERS SQUIBB COMPANY-2022-133512

PATIENT
  Age: 43 Year
  Sex: Female
  Weight: 97 kg

DRUGS (891)
  1. ORENCIA [Suspect]
     Active Substance: ABATACEPT
     Indication: Rheumatoid arthritis
     Route: 058
  2. ORENCIA [Suspect]
     Active Substance: ABATACEPT
     Route: 058
  3. ORENCIA [Suspect]
     Active Substance: ABATACEPT
     Route: 058
  4. ORENCIA [Suspect]
     Active Substance: ABATACEPT
     Route: 058
  5. ORENCIA [Suspect]
     Active Substance: ABATACEPT
     Route: 058
  6. ORENCIA [Suspect]
     Active Substance: ABATACEPT
     Route: 058
  7. ORENCIA [Suspect]
     Active Substance: ABATACEPT
     Indication: Rheumatoid arthritis
     Route: 042
  8. ORENCIA [Suspect]
     Active Substance: ABATACEPT
     Indication: Psoriatic arthropathy
     Route: 041
  9. ORENCIA [Suspect]
     Active Substance: ABATACEPT
     Route: 042
  10. ORENCIA [Suspect]
     Active Substance: ABATACEPT
     Route: 042
  11. ORENCIA [Suspect]
     Active Substance: ABATACEPT
     Route: 042
  12. ORENCIA [Suspect]
     Active Substance: ABATACEPT
     Route: 042
  13. ORENCIA [Suspect]
     Active Substance: ABATACEPT
     Route: 042
  14. ORENCIA [Suspect]
     Active Substance: ABATACEPT
     Route: 040
  15. ORENCIA [Suspect]
     Active Substance: ABATACEPT
     Route: 042
  16. ORENCIA [Suspect]
     Active Substance: ABATACEPT
     Indication: Rheumatoid arthritis
  17. ORENCIA [Suspect]
     Active Substance: ABATACEPT
  18. ORENCIA [Suspect]
     Active Substance: ABATACEPT
  19. ORENCIA [Suspect]
     Active Substance: ABATACEPT
  20. ORENCIA [Suspect]
     Active Substance: ABATACEPT
  21. ORENCIA [Suspect]
     Active Substance: ABATACEPT
  22. ORENCIA [Suspect]
     Active Substance: ABATACEPT
  23. ORENCIA [Suspect]
     Active Substance: ABATACEPT
     Route: 048
  24. ORENCIA [Suspect]
     Active Substance: ABATACEPT
     Indication: Rheumatoid arthritis
     Route: 015
  25. ORENCIA [Suspect]
     Active Substance: ABATACEPT
     Indication: Psoriatic arthropathy
     Route: 058
  26. ORENCIA [Suspect]
     Active Substance: ABATACEPT
  27. ORENCIA [Suspect]
     Active Substance: ABATACEPT
     Route: 042
  28. ORENCIA [Suspect]
     Active Substance: ABATACEPT
  29. ORENCIA [Suspect]
     Active Substance: ABATACEPT
     Route: 042
  30. ORENCIA [Suspect]
     Active Substance: ABATACEPT
     Route: 040
  31. TRIAMCINOLONE ACETONIDE [Suspect]
     Active Substance: TRIAMCINOLONE ACETONIDE
     Indication: Rheumatoid arthritis
  32. CALCIUM CARBONATE [Concomitant]
     Active Substance: CALCIUM CARBONATE
     Indication: Product used for unknown indication
  33. CALCIUM CARBONATE [Concomitant]
     Active Substance: CALCIUM CARBONATE
  34. ACETAMINOPHEN\OXYCODONE HYDROCHLORIDE [Concomitant]
     Active Substance: ACETAMINOPHEN\OXYCODONE HYDROCHLORIDE
     Indication: Product used for unknown indication
  35. ACETAMINOPHEN [Concomitant]
     Active Substance: ACETAMINOPHEN
     Indication: Rheumatoid arthritis
  36. ACETAMINOPHEN [Concomitant]
     Active Substance: ACETAMINOPHEN
     Route: 048
  37. ACETAMINOPHEN [Concomitant]
     Active Substance: ACETAMINOPHEN
  38. ACETAMINOPHEN [Concomitant]
     Active Substance: ACETAMINOPHEN
  39. ACETAMINOPHEN [Concomitant]
     Active Substance: ACETAMINOPHEN
  40. ACETAMINOPHEN [Concomitant]
     Active Substance: ACETAMINOPHEN
  41. ACETAMINOPHEN [Concomitant]
     Active Substance: ACETAMINOPHEN
  42. ACTEMRA [Concomitant]
     Active Substance: TOCILIZUMAB
     Indication: Rheumatoid arthritis
     Route: 042
  43. ACTEMRA [Concomitant]
     Active Substance: TOCILIZUMAB
     Route: 042
  44. ACTEMRA [Concomitant]
     Active Substance: TOCILIZUMAB
     Route: 058
  45. ACTEMRA [Concomitant]
     Active Substance: TOCILIZUMAB
     Route: 042
  46. ACTEMRA [Concomitant]
     Active Substance: TOCILIZUMAB
     Route: 048
  47. ACTEMRA [Concomitant]
     Active Substance: TOCILIZUMAB
  48. ACTEMRA [Concomitant]
     Active Substance: TOCILIZUMAB
  49. ACTEMRA [Concomitant]
     Active Substance: TOCILIZUMAB
     Route: 042
  50. ACTEMRA [Concomitant]
     Active Substance: TOCILIZUMAB
     Route: 058
  51. ACTEMRA [Concomitant]
     Active Substance: TOCILIZUMAB
     Route: 058
  52. ACTEMRA [Concomitant]
     Active Substance: TOCILIZUMAB
     Route: 061
  53. ACTEMRA [Concomitant]
     Active Substance: TOCILIZUMAB
  54. ACTEMRA [Concomitant]
     Active Substance: TOCILIZUMAB
     Route: 042
  55. ACTEMRA [Concomitant]
     Active Substance: TOCILIZUMAB
     Route: 042
  56. ACTEMRA [Concomitant]
     Active Substance: TOCILIZUMAB
     Route: 058
  57. ACTEMRA [Concomitant]
     Active Substance: TOCILIZUMAB
     Route: 048
  58. ACTEMRA [Concomitant]
     Active Substance: TOCILIZUMAB
     Route: 042
  59. ACTEMRA [Concomitant]
     Active Substance: TOCILIZUMAB
     Route: 040
  60. ACTEMRA [Concomitant]
     Active Substance: TOCILIZUMAB
     Route: 040
  61. ACTEMRA [Concomitant]
     Active Substance: TOCILIZUMAB
     Route: 040
  62. ACTEMRA [Concomitant]
     Active Substance: TOCILIZUMAB
     Route: 040
  63. ACTEMRA [Concomitant]
     Active Substance: TOCILIZUMAB
     Route: 058
  64. ACTEMRA [Concomitant]
     Active Substance: TOCILIZUMAB
  65. ACTEMRA [Concomitant]
     Active Substance: TOCILIZUMAB
  66. ACTEMRA [Concomitant]
     Active Substance: TOCILIZUMAB
     Route: 040
  67. ACTEMRA [Concomitant]
     Active Substance: TOCILIZUMAB
     Route: 040
  68. ACTEMRA [Concomitant]
     Active Substance: TOCILIZUMAB
  69. ACTEMRA [Concomitant]
     Active Substance: TOCILIZUMAB
     Route: 040
  70. ACTEMRA [Concomitant]
     Active Substance: TOCILIZUMAB
     Route: 040
  71. ACTEMRA [Concomitant]
     Active Substance: TOCILIZUMAB
     Route: 040
  72. ACTEMRA [Concomitant]
     Active Substance: TOCILIZUMAB
     Route: 040
  73. ACTEMRA [Concomitant]
     Active Substance: TOCILIZUMAB
  74. ADALIMUMAB [Concomitant]
     Active Substance: ADALIMUMAB
     Indication: Psoriatic arthropathy
     Route: 058
  75. ADALIMUMAB [Concomitant]
     Active Substance: ADALIMUMAB
     Indication: Rheumatoid arthritis
     Route: 048
  76. ADALIMUMAB [Concomitant]
     Active Substance: ADALIMUMAB
  77. ADALIMUMAB [Concomitant]
     Active Substance: ADALIMUMAB
     Route: 058
  78. ADALIMUMAB [Concomitant]
     Active Substance: ADALIMUMAB
     Route: 058
  79. ADALIMUMAB [Concomitant]
     Active Substance: ADALIMUMAB
     Route: 058
  80. ADALIMUMAB [Concomitant]
     Active Substance: ADALIMUMAB
     Route: 058
  81. ADALIMUMAB [Concomitant]
     Active Substance: ADALIMUMAB
     Route: 058
  82. ADALIMUMAB [Concomitant]
     Active Substance: ADALIMUMAB
  83. ALENDRONATE [Concomitant]
     Active Substance: ALENDRONATE SODIUM
     Indication: Rheumatoid arthritis
  84. ALENDRONATE [Concomitant]
     Active Substance: ALENDRONATE SODIUM
     Route: 048
  85. ALENDRONATE [Concomitant]
     Active Substance: ALENDRONATE SODIUM
     Route: 048
  86. ALENDRONATE [Concomitant]
     Active Substance: ALENDRONATE SODIUM
  87. ALENDRONATE [Concomitant]
     Active Substance: ALENDRONATE SODIUM
  88. PREDNISONE [Concomitant]
     Active Substance: PREDNISONE
     Indication: Rheumatoid arthritis
     Route: 048
  89. PREDNISONE [Concomitant]
     Active Substance: PREDNISONE
  90. PREDNISONE [Concomitant]
     Active Substance: PREDNISONE
  91. PREDNISONE [Concomitant]
     Active Substance: PREDNISONE
  92. PREDNISONE [Concomitant]
     Active Substance: PREDNISONE
  93. PREDNISONE [Concomitant]
     Active Substance: PREDNISONE
     Route: 048
  94. PREDNISONE [Concomitant]
     Active Substance: PREDNISONE
  95. PREDNISONE [Concomitant]
     Active Substance: PREDNISONE
     Route: 048
  96. PREDNISONE [Concomitant]
     Active Substance: PREDNISONE
  97. PREDNISONE [Concomitant]
     Active Substance: PREDNISONE
  98. PREDNISONE [Concomitant]
     Active Substance: PREDNISONE
     Route: 048
  99. PREDNISONE [Concomitant]
     Active Substance: PREDNISONE
     Route: 042
  100. PREDNISONE [Concomitant]
     Active Substance: PREDNISONE
     Route: 048
  101. PREDNISONE [Concomitant]
     Active Substance: PREDNISONE
  102. ARAVA [Concomitant]
     Active Substance: LEFLUNOMIDE
     Indication: Rheumatoid arthritis
     Route: 048
  103. ARAVA [Concomitant]
     Active Substance: LEFLUNOMIDE
  104. ARAVA [Concomitant]
     Active Substance: LEFLUNOMIDE
     Route: 048
  105. ARAVA [Concomitant]
     Active Substance: LEFLUNOMIDE
     Route: 048
  106. ARAVA [Concomitant]
     Active Substance: LEFLUNOMIDE
     Route: 048
  107. ARAVA [Concomitant]
     Active Substance: LEFLUNOMIDE
     Route: 048
  108. ARAVA [Concomitant]
     Active Substance: LEFLUNOMIDE
     Route: 048
  109. ARAVA [Concomitant]
     Active Substance: LEFLUNOMIDE
     Route: 005
  110. ARAVA [Concomitant]
     Active Substance: LEFLUNOMIDE
  111. ASCORBIC ACID [Concomitant]
     Active Substance: ASCORBIC ACID
     Indication: Product used for unknown indication
  112. ASCORBIC ACID [Concomitant]
     Active Substance: ASCORBIC ACID
     Indication: Product used for unknown indication
  113. ACETAMINOPHEN [Concomitant]
     Active Substance: ACETAMINOPHEN
     Indication: Product used for unknown indication
  114. ATIVAN [Concomitant]
     Active Substance: LORAZEPAM
     Indication: Product used for unknown indication
  115. CALCIUM GLUCONATE [Concomitant]
     Active Substance: CALCIUM GLUCONATE
     Indication: Product used for unknown indication
  116. CELEBREX [Concomitant]
     Active Substance: CELECOXIB
     Indication: Arthritis
     Route: 048
  117. CELEBREX [Concomitant]
     Active Substance: CELECOXIB
  118. CELEBREX [Concomitant]
     Active Substance: CELECOXIB
  119. CELEBREX [Concomitant]
     Active Substance: CELECOXIB
  120. CELEBREX [Concomitant]
     Active Substance: CELECOXIB
     Route: 048
  121. CETIRIZINE HYDROCHLORIDE [Concomitant]
     Active Substance: CETIRIZINE HYDROCHLORIDE
     Indication: Rheumatoid arthritis
     Route: 048
  122. CETIRIZINE HYDROCHLORIDE [Concomitant]
     Active Substance: CETIRIZINE HYDROCHLORIDE
  123. CETIRIZINE HYDROCHLORIDE [Concomitant]
     Active Substance: CETIRIZINE HYDROCHLORIDE
  124. CETIRIZINE HYDROCHLORIDE [Concomitant]
     Active Substance: CETIRIZINE HYDROCHLORIDE
  125. CETIRIZINE HYDROCHLORIDE [Concomitant]
     Active Substance: CETIRIZINE HYDROCHLORIDE
  126. CETIRIZINE HYDROCHLORIDE [Concomitant]
     Active Substance: CETIRIZINE HYDROCHLORIDE
  127. CETIRIZINE HYDROCHLORIDE [Concomitant]
     Active Substance: CETIRIZINE HYDROCHLORIDE
  128. CETIRIZINE HYDROCHLORIDE [Concomitant]
     Active Substance: CETIRIZINE HYDROCHLORIDE
  129. CETIRIZINE HYDROCHLORIDE [Concomitant]
     Active Substance: CETIRIZINE HYDROCHLORIDE
  130. CETIRIZINE HYDROCHLORIDE [Concomitant]
     Active Substance: CETIRIZINE HYDROCHLORIDE
  131. CETIRIZINE HYDROCHLORIDE [Concomitant]
     Active Substance: CETIRIZINE HYDROCHLORIDE
  132. CETIRIZINE HYDROCHLORIDE [Concomitant]
     Active Substance: CETIRIZINE HYDROCHLORIDE
     Route: 048
  133. CETIRIZINE HYDROCHLORIDE [Concomitant]
     Active Substance: CETIRIZINE HYDROCHLORIDE
     Route: 048
  134. CETIRIZINE HYDROCHLORIDE [Concomitant]
     Active Substance: CETIRIZINE HYDROCHLORIDE
     Route: 048
  135. CETIRIZINE HYDROCHLORIDE [Concomitant]
     Active Substance: CETIRIZINE HYDROCHLORIDE
  136. CETIRIZINE HYDROCHLORIDE [Concomitant]
     Active Substance: CETIRIZINE HYDROCHLORIDE
  137. CETIRIZINE HYDROCHLORIDE [Concomitant]
     Active Substance: CETIRIZINE HYDROCHLORIDE
  138. CETIRIZINE HYDROCHLORIDE [Concomitant]
     Active Substance: CETIRIZINE HYDROCHLORIDE
  139. CETIRIZINE HYDROCHLORIDE [Concomitant]
     Active Substance: CETIRIZINE HYDROCHLORIDE
  140. CHLORAPREP [Concomitant]
     Active Substance: CHLORHEXIDINE GLUCONATE\ISOPROPYL ALCOHOL
     Indication: Product used for unknown indication
     Route: 061
  141. CHLORAPREP [Concomitant]
     Active Substance: CHLORHEXIDINE GLUCONATE\ISOPROPYL ALCOHOL
     Route: 048
  142. CHLORAPREP [Concomitant]
     Active Substance: CHLORHEXIDINE GLUCONATE\ISOPROPYL ALCOHOL
  143. CHOLECALCIFEROL [Concomitant]
     Active Substance: CHOLECALCIFEROL
     Indication: Product used for unknown indication
  144. CIMZIA [Concomitant]
     Active Substance: CERTOLIZUMAB PEGOL
     Indication: Rheumatoid arthritis
  145. CIMZIA [Concomitant]
     Active Substance: CERTOLIZUMAB PEGOL
     Indication: Psoriasis
     Route: 058
  146. CIMZIA [Concomitant]
     Active Substance: CERTOLIZUMAB PEGOL
     Route: 058
  147. CODEINE [Concomitant]
     Active Substance: CODEINE
     Indication: Product used for unknown indication
  148. CORTISONE (HYDROCORTISONE) [Concomitant]
     Active Substance: HYDROCORTISONE
     Indication: Rheumatoid arthritis
     Route: 003
  149. CORTISONE (HYDROCORTISONE) [Concomitant]
     Active Substance: HYDROCORTISONE
     Route: 058
  150. CORTISONE (HYDROCORTISONE) [Concomitant]
     Active Substance: HYDROCORTISONE
     Route: 048
  151. CORTISONE (HYDROCORTISONE) [Concomitant]
     Active Substance: HYDROCORTISONE
     Route: 061
  152. CORTISONE (HYDROCORTISONE) [Concomitant]
     Active Substance: HYDROCORTISONE
     Route: 048
  153. CORTISONE (HYDROCORTISONE) [Concomitant]
     Active Substance: HYDROCORTISONE
     Route: 058
  154. CORTISONE (HYDROCORTISONE) [Concomitant]
     Active Substance: HYDROCORTISONE
     Route: 003
  155. CORTISONE (HYDROCORTISONE) [Concomitant]
     Active Substance: HYDROCORTISONE
  156. CORTISONE (HYDROCORTISONE) [Concomitant]
     Active Substance: HYDROCORTISONE
     Route: 048
  157. CORTISONE (HYDROCORTISONE) [Concomitant]
     Active Substance: HYDROCORTISONE
     Route: 061
  158. CORTISONE (HYDROCORTISONE) [Concomitant]
     Active Substance: HYDROCORTISONE
     Route: 061
  159. CORTISONE (HYDROCORTISONE) [Concomitant]
     Active Substance: HYDROCORTISONE
  160. CORTISONE (HYDROCORTISONE) [Concomitant]
     Active Substance: HYDROCORTISONE
  161. COSENTYX [Concomitant]
     Active Substance: SECUKINUMAB
     Indication: Psoriatic arthropathy
  162. COSENTYX [Concomitant]
     Active Substance: SECUKINUMAB
  163. COSENTYX [Concomitant]
     Active Substance: SECUKINUMAB
     Route: 048
  164. COSENTYX [Concomitant]
     Active Substance: SECUKINUMAB
  165. COSENTYX [Concomitant]
     Active Substance: SECUKINUMAB
     Route: 048
  166. COSENTYX [Concomitant]
     Active Substance: SECUKINUMAB
     Route: 048
  167. DESOGESTREL AND ETHINYL ESTRADIOL [Concomitant]
     Active Substance: DESOGESTREL\ETHINYL ESTRADIOL
     Indication: Product used for unknown indication
  168. DESOXIMETASONE [Concomitant]
     Active Substance: DESOXIMETASONE
     Indication: Rheumatoid arthritis
     Route: 058
  169. DESOXIMETASONE [Concomitant]
     Active Substance: DESOXIMETASONE
     Route: 048
  170. DESOXIMETASONE [Concomitant]
     Active Substance: DESOXIMETASONE
  171. DESOXIMETASONE [Concomitant]
     Active Substance: DESOXIMETASONE
  172. DESOXIMETASONE [Concomitant]
     Active Substance: DESOXIMETASONE
     Route: 048
  173. DESOXIMETASONE [Concomitant]
     Active Substance: DESOXIMETASONE
     Route: 048
  174. DESOXIMETASONE [Concomitant]
     Active Substance: DESOXIMETASONE
     Route: 058
  175. DESOXIMETASONE [Concomitant]
     Active Substance: DESOXIMETASONE
     Route: 048
  176. DESOXIMETASONE [Concomitant]
     Active Substance: DESOXIMETASONE
     Route: 048
  177. DESOXIMETASONE [Concomitant]
     Active Substance: DESOXIMETASONE
  178. DESOXIMETASONE [Concomitant]
     Active Substance: DESOXIMETASONE
     Route: 048
  179. DESOXIMETASONE [Concomitant]
     Active Substance: DESOXIMETASONE
     Route: 003
  180. DESOXIMETASONE [Concomitant]
     Active Substance: DESOXIMETASONE
     Route: 061
  181. DESOXIMETASONE [Concomitant]
     Active Substance: DESOXIMETASONE
     Route: 058
  182. DESOXIMETASONE [Concomitant]
     Active Substance: DESOXIMETASONE
     Route: 048
  183. DESOXIMETASONE [Concomitant]
     Active Substance: DESOXIMETASONE
     Route: 048
  184. DESOXIMETASONE [Concomitant]
     Active Substance: DESOXIMETASONE
     Route: 048
  185. DESOXIMETASONE [Concomitant]
     Active Substance: DESOXIMETASONE
     Route: 048
  186. DESOXIMETASONE [Concomitant]
     Active Substance: DESOXIMETASONE
  187. DESOXIMETASONE [Concomitant]
     Active Substance: DESOXIMETASONE
     Route: 003
  188. DESOXIMETASONE [Concomitant]
     Active Substance: DESOXIMETASONE
     Route: 061
  189. DESOXIMETASONE [Concomitant]
     Active Substance: DESOXIMETASONE
     Route: 048
  190. DESOXIMETASONE [Concomitant]
     Active Substance: DESOXIMETASONE
  191. DESOXIMETASONE [Concomitant]
     Active Substance: DESOXIMETASONE
     Route: 048
  192. DESOXIMETASONE [Concomitant]
     Active Substance: DESOXIMETASONE
  193. DESOXIMETASONE [Concomitant]
     Active Substance: DESOXIMETASONE
     Route: 003
  194. DESOXIMETASONE [Concomitant]
     Active Substance: DESOXIMETASONE
     Route: 003
  195. DESOXIMETASONE [Concomitant]
     Active Substance: DESOXIMETASONE
     Route: 048
  196. DESOXIMETASONE [Concomitant]
     Active Substance: DESOXIMETASONE
     Route: 042
  197. DESOXIMETASONE [Concomitant]
     Active Substance: DESOXIMETASONE
     Route: 048
  198. DESOXIMETASONE [Concomitant]
     Active Substance: DESOXIMETASONE
  199. DESOXIMETASONE [Concomitant]
     Active Substance: DESOXIMETASONE
  200. DESOXIMETASONE [Concomitant]
     Active Substance: DESOXIMETASONE
     Route: 058
  201. DICLOFENAC SODIUM [Concomitant]
     Active Substance: DICLOFENAC SODIUM
     Indication: Product used for unknown indication
  202. DICLOFENAC SODIUM [Concomitant]
     Active Substance: DICLOFENAC SODIUM
     Route: 047
  203. DICLOFENAC SODIUM [Concomitant]
     Active Substance: DICLOFENAC SODIUM
  204. DOXYCYCLINE [Concomitant]
     Active Substance: DOXYCYCLINE
     Indication: Product used for unknown indication
  205. DOXYCYCLINE [Concomitant]
     Active Substance: DOXYCYCLINE
  206. ENBREL [Concomitant]
     Active Substance: ETANERCEPT
     Indication: Psoriatic arthropathy
     Route: 058
  207. ENBREL [Concomitant]
     Active Substance: ETANERCEPT
     Indication: Rheumatoid arthritis
     Route: 058
  208. ENBREL [Concomitant]
     Active Substance: ETANERCEPT
     Route: 058
  209. ENBREL [Concomitant]
     Active Substance: ETANERCEPT
     Route: 058
  210. ENBREL [Concomitant]
     Active Substance: ETANERCEPT
     Route: 058
  211. ENBREL [Concomitant]
     Active Substance: ETANERCEPT
     Route: 058
  212. ENBREL [Concomitant]
     Active Substance: ETANERCEPT
     Route: 058
  213. ENBREL [Concomitant]
     Active Substance: ETANERCEPT
  214. ENBREL [Concomitant]
     Active Substance: ETANERCEPT
     Route: 058
  215. ENBREL [Concomitant]
     Active Substance: ETANERCEPT
     Route: 058
  216. ENBREL [Concomitant]
     Active Substance: ETANERCEPT
  217. ENBREL [Concomitant]
     Active Substance: ETANERCEPT
     Route: 058
  218. ENBREL [Concomitant]
     Active Substance: ETANERCEPT
     Route: 058
  219. ENBREL [Concomitant]
     Active Substance: ETANERCEPT
     Route: 058
  220. ENBREL [Concomitant]
     Active Substance: ETANERCEPT
     Route: 058
  221. ERGOCALCIFEROL [Concomitant]
     Active Substance: ERGOCALCIFEROL
     Indication: Product used for unknown indication
  222. FOLIC ACID [Concomitant]
     Active Substance: FOLIC ACID
     Indication: Rheumatoid arthritis
  223. FOLIC ACID [Concomitant]
     Active Substance: FOLIC ACID
  224. FOLIC ACID [Concomitant]
     Active Substance: FOLIC ACID
  225. FOLIC ACID [Concomitant]
     Active Substance: FOLIC ACID
  226. FOLIC ACID [Concomitant]
     Active Substance: FOLIC ACID
  227. FOLIC ACID [Concomitant]
     Active Substance: FOLIC ACID
  228. FOLIC ACID [Concomitant]
     Active Substance: FOLIC ACID
     Route: 058
  229. FOLIC ACID [Concomitant]
     Active Substance: FOLIC ACID
  230. FOLIC ACID [Concomitant]
     Active Substance: FOLIC ACID
  231. FOLIC ACID [Concomitant]
     Active Substance: FOLIC ACID
  232. FOLIC ACID [Concomitant]
     Active Substance: FOLIC ACID
     Route: 048
  233. FOLIC ACID [Concomitant]
     Active Substance: FOLIC ACID
  234. FOLIC ACID [Concomitant]
     Active Substance: FOLIC ACID
     Route: 048
  235. FOLIC ACID [Concomitant]
     Active Substance: FOLIC ACID
  236. FOLIC ACID [Concomitant]
     Active Substance: FOLIC ACID
  237. FOLIC ACID [Concomitant]
     Active Substance: FOLIC ACID
  238. FOLIC ACID [Concomitant]
     Active Substance: FOLIC ACID
     Route: 058
  239. FOLIC ACID [Concomitant]
     Active Substance: FOLIC ACID
     Route: 058
  240. FOLIC ACID [Concomitant]
     Active Substance: FOLIC ACID
  241. FOLIC ACID [Concomitant]
     Active Substance: FOLIC ACID
  242. FOLIC ACID [Concomitant]
     Active Substance: FOLIC ACID
  243. FOLIC ACID [Concomitant]
     Active Substance: FOLIC ACID
  244. FOLIC ACID [Concomitant]
     Active Substance: FOLIC ACID
  245. FOLIC ACID [Concomitant]
     Active Substance: FOLIC ACID
  246. FOLIC ACID [Concomitant]
     Active Substance: FOLIC ACID
     Route: 048
  247. FOLIC ACID [Concomitant]
     Active Substance: FOLIC ACID
  248. FOLIC ACID [Concomitant]
     Active Substance: FOLIC ACID
  249. FOLIC ACID [Concomitant]
     Active Substance: FOLIC ACID
  250. FOLIC ACID [Concomitant]
     Active Substance: FOLIC ACID
     Route: 048
  251. FOLIC ACID [Concomitant]
     Active Substance: FOLIC ACID
  252. FOLIC ACID [Concomitant]
     Active Substance: FOLIC ACID
  253. FOLIC ACID [Concomitant]
     Active Substance: FOLIC ACID
  254. FOLIC ACID [Concomitant]
     Active Substance: FOLIC ACID
  255. FOLIC ACID [Concomitant]
     Active Substance: FOLIC ACID
  256. FOLIC ACID [Concomitant]
     Active Substance: FOLIC ACID
     Route: 048
  257. FOLIC ACID [Concomitant]
     Active Substance: FOLIC ACID
     Route: 048
  258. FOLIC ACID [Concomitant]
     Active Substance: FOLIC ACID
     Route: 048
  259. FOLIC ACID [Concomitant]
     Active Substance: FOLIC ACID
     Route: 048
  260. FOLIC ACID [Concomitant]
     Active Substance: FOLIC ACID
  261. FOLIC ACID [Concomitant]
     Active Substance: FOLIC ACID
  262. FOLIC ACID [Concomitant]
     Active Substance: FOLIC ACID
  263. FOLIC ACID [Concomitant]
     Active Substance: FOLIC ACID
  264. FOLIC ACID [Concomitant]
     Active Substance: FOLIC ACID
  265. FOLIC ACID [Concomitant]
     Active Substance: FOLIC ACID
  266. FOLIC ACID [Concomitant]
     Active Substance: FOLIC ACID
  267. FOLIC ACID [Concomitant]
     Active Substance: FOLIC ACID
  268. FOLIC ACID [Concomitant]
     Active Substance: FOLIC ACID
  269. FOLIC ACID [Concomitant]
     Active Substance: FOLIC ACID
  270. FOLIC ACID [Concomitant]
     Active Substance: FOLIC ACID
     Route: 048
  271. FOSAMAX [Concomitant]
     Active Substance: ALENDRONATE SODIUM
     Indication: Rheumatoid arthritis
     Route: 048
  272. FOSAMAX [Concomitant]
     Active Substance: ALENDRONATE SODIUM
     Route: 005
  273. FOSAMAX [Concomitant]
     Active Substance: ALENDRONATE SODIUM
  274. FOSAMAX [Concomitant]
     Active Substance: ALENDRONATE SODIUM
     Route: 058
  275. FOSAMAX [Concomitant]
     Active Substance: ALENDRONATE SODIUM
  276. GLUCOSAMINE [Concomitant]
     Active Substance: GLUCOSAMINE
     Indication: Product used for unknown indication
  277. HUMIRA [Concomitant]
     Active Substance: ADALIMUMAB
     Indication: Rheumatoid arthritis
     Route: 058
  278. HUMIRA [Concomitant]
     Active Substance: ADALIMUMAB
     Indication: Psoriatic arthropathy
     Route: 048
  279. HUMIRA [Concomitant]
     Active Substance: ADALIMUMAB
     Route: 058
  280. HUMIRA [Concomitant]
     Active Substance: ADALIMUMAB
     Route: 058
  281. HUMIRA [Concomitant]
     Active Substance: ADALIMUMAB
     Route: 058
  282. HUMIRA [Concomitant]
     Active Substance: ADALIMUMAB
  283. HUMIRA [Concomitant]
     Active Substance: ADALIMUMAB
     Route: 058
  284. HUMIRA [Concomitant]
     Active Substance: ADALIMUMAB
  285. HUMIRA [Concomitant]
     Active Substance: ADALIMUMAB
     Route: 058
  286. HUMIRA [Concomitant]
     Active Substance: ADALIMUMAB
     Route: 058
  287. HUMIRA [Concomitant]
     Active Substance: ADALIMUMAB
     Route: 057
  288. HUMIRA [Concomitant]
     Active Substance: ADALIMUMAB
     Route: 057
  289. HUMIRA [Concomitant]
     Active Substance: ADALIMUMAB
     Route: 058
  290. HUMIRA [Concomitant]
     Active Substance: ADALIMUMAB
     Route: 058
  291. HUMIRA [Concomitant]
     Active Substance: ADALIMUMAB
     Route: 058
  292. HUMIRA [Concomitant]
     Active Substance: ADALIMUMAB
     Route: 058
  293. HUMIRA [Concomitant]
     Active Substance: ADALIMUMAB
     Route: 058
  294. HUMIRA [Concomitant]
     Active Substance: ADALIMUMAB
     Route: 058
  295. HUMIRA [Concomitant]
     Active Substance: ADALIMUMAB
     Route: 042
  296. HUMIRA [Concomitant]
     Active Substance: ADALIMUMAB
     Route: 058
  297. HUMIRA [Concomitant]
     Active Substance: ADALIMUMAB
     Route: 058
  298. HUMIRA [Concomitant]
     Active Substance: ADALIMUMAB
     Route: 058
  299. HUMIRA [Concomitant]
     Active Substance: ADALIMUMAB
  300. IBUPROFEN [Concomitant]
     Active Substance: IBUPROFEN
     Indication: Product used for unknown indication
  301. INFLIXIMAB [Concomitant]
     Active Substance: INFLIXIMAB
     Indication: Rheumatoid arthritis
     Route: 042
  302. INFLIXIMAB [Concomitant]
     Active Substance: INFLIXIMAB
     Indication: Crohn^s disease
     Route: 042
  303. INFLIXIMAB [Concomitant]
     Active Substance: INFLIXIMAB
     Indication: Ankylosing spondylitis
     Route: 042
  304. INFLIXIMAB [Concomitant]
     Active Substance: INFLIXIMAB
  305. INFLIXIMAB [Concomitant]
     Active Substance: INFLIXIMAB
  306. INFLIXIMAB [Concomitant]
     Active Substance: INFLIXIMAB
  307. INFLIXIMAB [Concomitant]
     Active Substance: INFLIXIMAB
     Route: 040
  308. KEVZARA [Concomitant]
     Active Substance: SARILUMAB
     Indication: Rheumatoid arthritis
  309. KEVZARA [Concomitant]
     Active Substance: SARILUMAB
  310. LANSOPRAZOLE [Concomitant]
     Active Substance: LANSOPRAZOLE
     Indication: Product used for unknown indication
  311. LEVOTHYROXINE SODIUM [Concomitant]
     Active Substance: LEVOTHYROXINE SODIUM
     Indication: Product used for unknown indication
  312. LISINOPRIL [Concomitant]
     Active Substance: LISINOPRIL
     Indication: Product used for unknown indication
  313. LYRICA [Concomitant]
     Active Substance: PREGABALIN
     Indication: Fibromyalgia
  314. MAGNESIUM HYDROXIDE [Concomitant]
     Active Substance: MAGNESIUM HYDROXIDE
     Indication: Product used for unknown indication
  315. MELOXICAM [Concomitant]
     Active Substance: MELOXICAM
     Indication: Product used for unknown indication
  316. METHOTREXATE [Concomitant]
     Active Substance: METHOTREXATE
     Indication: Rheumatoid arthritis
  317. METHOTREXATE [Concomitant]
     Active Substance: METHOTREXATE
     Indication: Psoriatic arthropathy
     Route: 013
  318. METHOTREXATE [Concomitant]
     Active Substance: METHOTREXATE
     Route: 048
  319. METHOTREXATE [Concomitant]
     Active Substance: METHOTREXATE
     Route: 048
  320. METHOTREXATE [Concomitant]
     Active Substance: METHOTREXATE
     Route: 048
  321. METHOTREXATE [Concomitant]
     Active Substance: METHOTREXATE
  322. METHOTREXATE [Concomitant]
     Active Substance: METHOTREXATE
     Route: 058
  323. METHOTREXATE [Concomitant]
     Active Substance: METHOTREXATE
     Route: 013
  324. METHOTREXATE [Concomitant]
     Active Substance: METHOTREXATE
     Route: 013
  325. METHOTREXATE [Concomitant]
     Active Substance: METHOTREXATE
     Route: 048
  326. METHOTREXATE [Concomitant]
     Active Substance: METHOTREXATE
     Route: 048
  327. METHOTREXATE [Concomitant]
     Active Substance: METHOTREXATE
  328. METHOTREXATE [Concomitant]
     Active Substance: METHOTREXATE
     Route: 048
  329. METHOTREXATE [Concomitant]
     Active Substance: METHOTREXATE
     Route: 048
  330. METHOTREXATE [Concomitant]
     Active Substance: METHOTREXATE
  331. METHOTREXATE [Concomitant]
     Active Substance: METHOTREXATE
     Route: 048
  332. METHOTREXATE [Concomitant]
     Active Substance: METHOTREXATE
  333. METHOTREXATE [Concomitant]
     Active Substance: METHOTREXATE
  334. METHOTREXATE [Concomitant]
     Active Substance: METHOTREXATE
  335. METHOTREXATE [Concomitant]
     Active Substance: METHOTREXATE
     Route: 048
  336. METHOTREXATE [Concomitant]
     Active Substance: METHOTREXATE
     Route: 058
  337. METHOTREXATE [Concomitant]
     Active Substance: METHOTREXATE
     Route: 048
  338. METHOTREXATE [Concomitant]
     Active Substance: METHOTREXATE
     Route: 048
  339. METHOTREXATE [Concomitant]
     Active Substance: METHOTREXATE
     Route: 048
  340. METHOTREXATE [Concomitant]
     Active Substance: METHOTREXATE
     Route: 048
  341. METHOTREXATE [Concomitant]
     Active Substance: METHOTREXATE
     Route: 048
  342. MYCOPHENOLATE MOFETIL [Concomitant]
     Active Substance: MYCOPHENOLATE MOFETIL
     Indication: Product used for unknown indication
  343. NAPROXEN SODIUM [Concomitant]
     Active Substance: NAPROXEN SODIUM
     Indication: Rheumatoid arthritis
  344. NAPROXEN SODIUM [Concomitant]
     Active Substance: NAPROXEN SODIUM
  345. NAPROXEN SODIUM [Concomitant]
     Active Substance: NAPROXEN SODIUM
  346. NAPROXEN SODIUM [Concomitant]
     Active Substance: NAPROXEN SODIUM
  347. NEOMYCIN [Concomitant]
     Active Substance: NEOMYCIN
     Indication: Product used for unknown indication
  348. OTEZLA [Concomitant]
     Active Substance: APREMILAST
     Indication: Product used for unknown indication
     Route: 048
  349. OTEZLA [Concomitant]
     Active Substance: APREMILAST
  350. OXYCODONE [Concomitant]
     Active Substance: OXYCODONE
     Indication: Product used for unknown indication
  351. OXYCODONE [Concomitant]
     Active Substance: OXYCODONE
  352. PANTOPRAZOLE SODIUM [Concomitant]
     Active Substance: PANTOPRAZOLE SODIUM
     Indication: Product used for unknown indication
  353. PIROXICAM [Concomitant]
     Active Substance: PIROXICAM
     Indication: Product used for unknown indication
  354. HYDROXYCHLOROQUINE DIPHOSPHATE [Concomitant]
     Active Substance: HYDROXYCHLOROQUINE DIPHOSPHATE
     Indication: Rheumatoid arthritis
     Route: 048
  355. HYDROXYCHLOROQUINE DIPHOSPHATE [Concomitant]
     Active Substance: HYDROXYCHLOROQUINE DIPHOSPHATE
  356. HYDROXYCHLOROQUINE DIPHOSPHATE [Concomitant]
     Active Substance: HYDROXYCHLOROQUINE DIPHOSPHATE
     Route: 048
  357. HYDROXYCHLOROQUINE DIPHOSPHATE [Concomitant]
     Active Substance: HYDROXYCHLOROQUINE DIPHOSPHATE
  358. HYDROXYCHLOROQUINE DIPHOSPHATE [Concomitant]
     Active Substance: HYDROXYCHLOROQUINE DIPHOSPHATE
  359. HYDROXYCHLOROQUINE DIPHOSPHATE [Concomitant]
     Active Substance: HYDROXYCHLOROQUINE DIPHOSPHATE
  360. HYDROXYCHLOROQUINE DIPHOSPHATE [Concomitant]
     Active Substance: HYDROXYCHLOROQUINE DIPHOSPHATE
     Route: 048
  361. PREDNISOLONE [Concomitant]
     Active Substance: PREDNISOLONE
     Indication: Product used for unknown indication
  362. PREDNISONE [Concomitant]
     Active Substance: PREDNISONE
     Indication: Rheumatoid arthritis
     Route: 048
  363. PREDNISONE [Concomitant]
     Active Substance: PREDNISONE
     Indication: Psoriatic arthropathy
     Route: 042
  364. PREDNISONE [Concomitant]
     Active Substance: PREDNISONE
     Indication: Condition aggravated
     Route: 048
  365. PREDNISONE [Concomitant]
     Active Substance: PREDNISONE
     Route: 042
  366. PREDNISONE [Concomitant]
     Active Substance: PREDNISONE
     Route: 048
  367. PREDNISONE [Concomitant]
     Active Substance: PREDNISONE
  368. PREDNISONE [Concomitant]
     Active Substance: PREDNISONE
     Route: 048
  369. PREDNISONE [Concomitant]
     Active Substance: PREDNISONE
     Route: 048
  370. PREDNISONE [Concomitant]
     Active Substance: PREDNISONE
  371. PREDNISONE [Concomitant]
     Active Substance: PREDNISONE
     Route: 048
  372. PREDNISONE [Concomitant]
     Active Substance: PREDNISONE
     Route: 048
  373. PREDNISONE [Concomitant]
     Active Substance: PREDNISONE
  374. PREDNISONE [Concomitant]
     Active Substance: PREDNISONE
     Route: 048
  375. PREDNISONE [Concomitant]
     Active Substance: PREDNISONE
     Route: 048
  376. PREDNISONE [Concomitant]
     Active Substance: PREDNISONE
  377. PREDNISONE [Concomitant]
     Active Substance: PREDNISONE
     Route: 040
  378. PREDNISONE [Concomitant]
     Active Substance: PREDNISONE
  379. PREDNISONE [Concomitant]
     Active Substance: PREDNISONE
     Route: 048
  380. PREDNISONE [Concomitant]
     Active Substance: PREDNISONE
     Route: 048
  381. PSEUDOEPHEDRINE [Concomitant]
     Active Substance: PSEUDOEPHEDRINE
     Indication: Rheumatoid arthritis
  382. PSEUDOEPHEDRINE [Concomitant]
     Active Substance: PSEUDOEPHEDRINE
  383. PSEUDOEPHEDRINE [Concomitant]
     Active Substance: PSEUDOEPHEDRINE
  384. PSEUDOEPHEDRINE [Concomitant]
     Active Substance: PSEUDOEPHEDRINE
     Route: 048
  385. QUETIAPINE [Concomitant]
     Active Substance: QUETIAPINE
     Indication: Product used for unknown indication
  386. RAMIPRIL [Concomitant]
     Active Substance: RAMIPRIL
     Indication: Rheumatoid arthritis
  387. RAMIPRIL [Concomitant]
     Active Substance: RAMIPRIL
     Route: 016
  388. RAMIPRIL [Concomitant]
     Active Substance: RAMIPRIL
     Route: 040
  389. CETIRIZINE HYDROCHLORIDE [Concomitant]
     Active Substance: CETIRIZINE HYDROCHLORIDE
     Indication: Rheumatoid arthritis
  390. CETIRIZINE HYDROCHLORIDE [Concomitant]
     Active Substance: CETIRIZINE HYDROCHLORIDE
     Route: 048
  391. CETIRIZINE HYDROCHLORIDE [Concomitant]
     Active Substance: CETIRIZINE HYDROCHLORIDE
  392. CETIRIZINE HYDROCHLORIDE [Concomitant]
     Active Substance: CETIRIZINE HYDROCHLORIDE
     Route: 048
  393. CETIRIZINE HYDROCHLORIDE\PSEUDOEPHEDRINE HYDROCHLORIDE [Concomitant]
     Active Substance: CETIRIZINE HYDROCHLORIDE\PSEUDOEPHEDRINE HYDROCHLORIDE
     Indication: Rheumatoid arthritis
     Route: 048
  394. CETIRIZINE HYDROCHLORIDE\PSEUDOEPHEDRINE HYDROCHLORIDE [Concomitant]
     Active Substance: CETIRIZINE HYDROCHLORIDE\PSEUDOEPHEDRINE HYDROCHLORIDE
  395. CETIRIZINE HYDROCHLORIDE\PSEUDOEPHEDRINE HYDROCHLORIDE [Concomitant]
     Active Substance: CETIRIZINE HYDROCHLORIDE\PSEUDOEPHEDRINE HYDROCHLORIDE
     Route: 042
  396. CETIRIZINE HYDROCHLORIDE\PSEUDOEPHEDRINE HYDROCHLORIDE [Concomitant]
     Active Substance: CETIRIZINE HYDROCHLORIDE\PSEUDOEPHEDRINE HYDROCHLORIDE
  397. CETIRIZINE HYDROCHLORIDE\PSEUDOEPHEDRINE HYDROCHLORIDE [Concomitant]
     Active Substance: CETIRIZINE HYDROCHLORIDE\PSEUDOEPHEDRINE HYDROCHLORIDE
  398. CETIRIZINE HYDROCHLORIDE\PSEUDOEPHEDRINE HYDROCHLORIDE [Concomitant]
     Active Substance: CETIRIZINE HYDROCHLORIDE\PSEUDOEPHEDRINE HYDROCHLORIDE
  399. CETIRIZINE HYDROCHLORIDE\PSEUDOEPHEDRINE HYDROCHLORIDE [Concomitant]
     Active Substance: CETIRIZINE HYDROCHLORIDE\PSEUDOEPHEDRINE HYDROCHLORIDE
  400. CETIRIZINE HYDROCHLORIDE\PSEUDOEPHEDRINE HYDROCHLORIDE [Concomitant]
     Active Substance: CETIRIZINE HYDROCHLORIDE\PSEUDOEPHEDRINE HYDROCHLORIDE
  401. CETIRIZINE HYDROCHLORIDE\PSEUDOEPHEDRINE HYDROCHLORIDE [Concomitant]
     Active Substance: CETIRIZINE HYDROCHLORIDE\PSEUDOEPHEDRINE HYDROCHLORIDE
  402. CETIRIZINE HYDROCHLORIDE\PSEUDOEPHEDRINE HYDROCHLORIDE [Concomitant]
     Active Substance: CETIRIZINE HYDROCHLORIDE\PSEUDOEPHEDRINE HYDROCHLORIDE
  403. CETIRIZINE HYDROCHLORIDE\PSEUDOEPHEDRINE HYDROCHLORIDE [Concomitant]
     Active Substance: CETIRIZINE HYDROCHLORIDE\PSEUDOEPHEDRINE HYDROCHLORIDE
  404. RISEDRONATE SODIUM [Concomitant]
     Active Substance: RISEDRONATE SODIUM
     Indication: Product used for unknown indication
  405. RITUXIMAB [Concomitant]
     Active Substance: RITUXIMAB
     Indication: Rheumatoid arthritis
     Route: 041
  406. RITUXIMAB [Concomitant]
     Active Substance: RITUXIMAB
     Route: 058
  407. RITUXIMAB [Concomitant]
     Active Substance: RITUXIMAB
     Route: 042
  408. RITUXIMAB [Concomitant]
     Active Substance: RITUXIMAB
     Route: 043
  409. RITUXIMAB [Concomitant]
     Active Substance: RITUXIMAB
  410. RITUXIMAB [Concomitant]
     Active Substance: RITUXIMAB
     Route: 040
  411. RITUXIMAB [Concomitant]
     Active Substance: RITUXIMAB
  412. SULFASALAZINE [Concomitant]
     Active Substance: SULFASALAZINE
     Indication: Product used for unknown indication
  413. SULFASALAZINE [Concomitant]
     Active Substance: SULFASALAZINE
  414. SULFASALAZINE [Concomitant]
     Active Substance: SULFASALAZINE
  415. SIMPONI [Concomitant]
     Active Substance: GOLIMUMAB
     Indication: Rheumatoid arthritis
     Route: 058
  416. SIMPONI [Concomitant]
     Active Substance: GOLIMUMAB
     Indication: Psoriatic arthropathy
     Dosage: SOLUTION SUBCUTANEOUS
  417. SIMPONI [Concomitant]
     Active Substance: GOLIMUMAB
     Route: 042
  418. SIMPONI [Concomitant]
     Active Substance: GOLIMUMAB
     Route: 058
  419. SIMPONI [Concomitant]
     Active Substance: GOLIMUMAB
  420. SIMPONI [Concomitant]
     Active Substance: GOLIMUMAB
     Route: 042
  421. SIMPONI [Concomitant]
     Active Substance: GOLIMUMAB
     Route: 058
  422. SIMPONI [Concomitant]
     Active Substance: GOLIMUMAB
     Route: 058
  423. STELARA [Concomitant]
     Active Substance: USTEKINUMAB
     Indication: Psoriatic arthropathy
     Route: 042
  424. STELARA [Concomitant]
     Active Substance: USTEKINUMAB
     Route: 058
  425. STELARA [Concomitant]
     Active Substance: USTEKINUMAB
     Route: 058
  426. STELARA [Concomitant]
     Active Substance: USTEKINUMAB
  427. STELARA [Concomitant]
     Active Substance: USTEKINUMAB
  428. STELARA [Concomitant]
     Active Substance: USTEKINUMAB
     Route: 058
  429. STELARA [Concomitant]
     Active Substance: USTEKINUMAB
     Route: 042
  430. STELARA [Concomitant]
     Active Substance: USTEKINUMAB
     Route: 058
  431. SULFAMETHOXAZOLE [Concomitant]
     Active Substance: SULFAMETHOXAZOLE
     Indication: Product used for unknown indication
  432. SULFAMETHOXAZOLE [Concomitant]
     Active Substance: SULFAMETHOXAZOLE
     Route: 067
  433. SULFAMETHOXAZOLE AND TRIMETHOPRIM [Concomitant]
     Active Substance: SULFAMETHOXAZOLE\TRIMETHOPRIM
     Indication: Product used for unknown indication
  434. SULFASALAZINE [Concomitant]
     Active Substance: SULFASALAZINE
     Indication: Rheumatoid arthritis
     Route: 048
  435. SULFASALAZINE [Concomitant]
     Active Substance: SULFASALAZINE
  436. SULFASALAZINE [Concomitant]
     Active Substance: SULFASALAZINE
     Route: 048
  437. SULFASALAZINE [Concomitant]
     Active Substance: SULFASALAZINE
  438. SULFASALAZINE [Concomitant]
     Active Substance: SULFASALAZINE
  439. SULFASALAZINE [Concomitant]
     Active Substance: SULFASALAZINE
  440. SULFASALAZINE [Concomitant]
     Active Substance: SULFASALAZINE
     Route: 048
  441. SULFASALAZINE [Concomitant]
     Active Substance: SULFASALAZINE
     Route: 048
  442. SULFASALAZINE [Concomitant]
     Active Substance: SULFASALAZINE
     Route: 048
  443. SULFASALAZINE [Concomitant]
     Active Substance: SULFASALAZINE
     Route: 048
  444. SULFASALAZINE [Concomitant]
     Active Substance: SULFASALAZINE
  445. SULFASALAZINE [Concomitant]
     Active Substance: SULFASALAZINE
     Route: 048
  446. SULFASALAZINE [Concomitant]
     Active Substance: SULFASALAZINE
     Route: 048
  447. SULFASALAZINE [Concomitant]
     Active Substance: SULFASALAZINE
     Route: 048
  448. SULFASALAZINE [Concomitant]
     Active Substance: SULFASALAZINE
     Route: 048
  449. SULFASALAZINE [Concomitant]
     Active Substance: SULFASALAZINE
     Route: 048
  450. SULFASALAZINE [Concomitant]
     Active Substance: SULFASALAZINE
     Route: 048
  451. SULFASALAZINE [Concomitant]
     Active Substance: SULFASALAZINE
  452. SULFASALAZINE [Concomitant]
     Active Substance: SULFASALAZINE
  453. SULFASALAZINE [Concomitant]
     Active Substance: SULFASALAZINE
     Route: 058
  454. SULFASALAZINE [Concomitant]
     Active Substance: SULFASALAZINE
     Route: 048
  455. SULFASALAZINE [Concomitant]
     Active Substance: SULFASALAZINE
     Route: 048
  456. SULFASALAZINE [Concomitant]
     Active Substance: SULFASALAZINE
     Route: 058
  457. SULFASALAZINE [Concomitant]
     Active Substance: SULFASALAZINE
     Route: 058
  458. SULFASALAZINE [Concomitant]
     Active Substance: SULFASALAZINE
     Route: 058
  459. SULFASALAZINE [Concomitant]
     Active Substance: SULFASALAZINE
     Route: 048
  460. SULFASALAZINE [Concomitant]
     Active Substance: SULFASALAZINE
     Route: 048
  461. SULFASALAZINE [Concomitant]
     Active Substance: SULFASALAZINE
     Route: 048
  462. SULFASALAZINE [Concomitant]
     Active Substance: SULFASALAZINE
  463. SULFASALAZINE [Concomitant]
     Active Substance: SULFASALAZINE
     Route: 048
  464. SULFASALAZINE [Concomitant]
     Active Substance: SULFASALAZINE
     Route: 048
  465. SULFASALAZINE [Concomitant]
     Active Substance: SULFASALAZINE
     Route: 048
  466. SULFASALAZINE [Concomitant]
     Active Substance: SULFASALAZINE
     Route: 048
  467. SULFASALAZINE [Concomitant]
     Active Substance: SULFASALAZINE
     Route: 048
  468. SULFASALAZINE [Concomitant]
     Active Substance: SULFASALAZINE
     Route: 048
  469. SULFASALAZINE [Concomitant]
     Active Substance: SULFASALAZINE
     Route: 058
  470. SULFASALAZINE [Concomitant]
     Active Substance: SULFASALAZINE
  471. SULFASALAZINE [Concomitant]
     Active Substance: SULFASALAZINE
  472. SULFASALAZINE [Concomitant]
     Active Substance: SULFASALAZINE
     Route: 048
  473. SULFASALAZINE [Concomitant]
     Active Substance: SULFASALAZINE
     Route: 058
  474. SULFASALAZINE [Concomitant]
     Active Substance: SULFASALAZINE
     Route: 048
  475. SULFASALAZINE [Concomitant]
     Active Substance: SULFASALAZINE
     Route: 048
  476. SULFASALAZINE [Concomitant]
     Active Substance: SULFASALAZINE
  477. SULFASALAZINE [Concomitant]
     Active Substance: SULFASALAZINE
  478. SULFASALAZINE [Concomitant]
     Active Substance: SULFASALAZINE
     Route: 048
  479. SULFASALAZINE [Concomitant]
     Active Substance: SULFASALAZINE
     Route: 048
  480. SULFASALAZINE [Concomitant]
     Active Substance: SULFASALAZINE
     Route: 048
  481. SULFASALAZINE [Concomitant]
     Active Substance: SULFASALAZINE
  482. SULFASALAZINE [Concomitant]
     Active Substance: SULFASALAZINE
     Route: 048
  483. SULFASALAZINE [Concomitant]
     Active Substance: SULFASALAZINE
     Route: 058
  484. SULFASALAZINE [Concomitant]
     Active Substance: SULFASALAZINE
     Route: 048
  485. SULFASALAZINE [Concomitant]
     Active Substance: SULFASALAZINE
     Route: 058
  486. SULFASALAZINE [Concomitant]
     Active Substance: SULFASALAZINE
     Route: 048
  487. SULFASALAZINE [Concomitant]
     Active Substance: SULFASALAZINE
     Route: 058
  488. SULFASALAZINE [Concomitant]
     Active Substance: SULFASALAZINE
  489. SULFASALAZINE [Concomitant]
     Active Substance: SULFASALAZINE
     Route: 048
  490. SULFASALAZINE [Concomitant]
     Active Substance: SULFASALAZINE
     Route: 048
  491. SULFASALAZINE [Concomitant]
     Active Substance: SULFASALAZINE
     Route: 050
  492. SULFASALAZINE [Concomitant]
     Active Substance: SULFASALAZINE
     Route: 048
  493. SULFASALAZINE [Concomitant]
     Active Substance: SULFASALAZINE
     Route: 048
  494. SULFASALAZINE [Concomitant]
     Active Substance: SULFASALAZINE
     Route: 048
  495. SULFASALAZINE [Concomitant]
     Active Substance: SULFASALAZINE
     Route: 048
  496. SULFASALAZINE [Concomitant]
     Active Substance: SULFASALAZINE
     Route: 058
  497. SULFASALAZINE [Concomitant]
     Active Substance: SULFASALAZINE
     Route: 048
  498. SULFASALAZINE [Concomitant]
     Active Substance: SULFASALAZINE
     Route: 048
  499. SULFASALAZINE [Concomitant]
     Active Substance: SULFASALAZINE
  500. SULFASALAZINE [Concomitant]
     Active Substance: SULFASALAZINE
     Route: 048
  501. TRAMADOL HYDROCHLORIDE [Concomitant]
     Active Substance: TRAMADOL HYDROCHLORIDE
     Indication: Product used for unknown indication
  502. TYLENOL WITH CODEINE [Concomitant]
     Active Substance: ACETAMINOPHEN\CODEINE PHOSPHATE
     Indication: Product used for unknown indication
  503. XELJANZ [Concomitant]
     Active Substance: TOFACITINIB CITRATE
     Indication: Rheumatoid arthritis
     Route: 048
  504. XELJANZ [Concomitant]
     Active Substance: TOFACITINIB CITRATE
  505. XELJANZ [Concomitant]
     Active Substance: TOFACITINIB CITRATE
     Route: 048
  506. XELJANZ [Concomitant]
     Active Substance: TOFACITINIB CITRATE
  507. XELJANZ [Concomitant]
     Active Substance: TOFACITINIB CITRATE
  508. XELJANZ [Concomitant]
     Active Substance: TOFACITINIB CITRATE
     Route: 048
  509. XELJANZ [Concomitant]
     Active Substance: TOFACITINIB CITRATE
     Route: 048
  510. XELJANZ [Concomitant]
     Active Substance: TOFACITINIB CITRATE
  511. XELJANZ [Concomitant]
     Active Substance: TOFACITINIB CITRATE
  512. XELJANZ [Concomitant]
     Active Substance: TOFACITINIB CITRATE
  513. XELJANZ [Concomitant]
     Active Substance: TOFACITINIB CITRATE
  514. CAFFEINE;DIHYDROCODEINE;PARACETAMOL [Concomitant]
     Indication: Product used for unknown indication
  515. FLUMETHASONE PIVALATE [Concomitant]
     Active Substance: FLUMETHASONE PIVALATE
     Indication: Rheumatoid arthritis
     Route: 058
  516. FLUMETHASONE PIVALATE [Concomitant]
     Active Substance: FLUMETHASONE PIVALATE
  517. FLUMETHASONE PIVALATE [Concomitant]
     Active Substance: FLUMETHASONE PIVALATE
  518. HYDROCORTISONE PROBUTATE [Concomitant]
     Active Substance: HYDROCORTISONE PROBUTATE
     Indication: Rheumatoid arthritis
  519. HYDROCORTISONE PROBUTATE [Concomitant]
     Active Substance: HYDROCORTISONE PROBUTATE
  520. HYDROCORTISONE PROBUTATE [Concomitant]
     Active Substance: HYDROCORTISONE PROBUTATE
     Route: 061
  521. HYDROCORTISONE PROBUTATE [Concomitant]
     Active Substance: HYDROCORTISONE PROBUTATE
     Route: 003
  522. HYDROCORTISONE PROBUTATE [Concomitant]
     Active Substance: HYDROCORTISONE PROBUTATE
     Route: 048
  523. HYDROCORTISONE PROBUTATE [Concomitant]
     Active Substance: HYDROCORTISONE PROBUTATE
     Route: 061
  524. PHTHALYLSULFATHIAZOLE [Concomitant]
     Active Substance: PHTHALYLSULFATHIAZOLE
     Indication: Rheumatoid arthritis
  525. PHTHALYLSULFATHIAZOLE [Concomitant]
     Active Substance: PHTHALYLSULFATHIAZOLE
     Route: 016
  526. PHTHALYLSULFATHIAZOLE [Concomitant]
     Active Substance: PHTHALYLSULFATHIAZOLE
     Route: 048
  527. PHTHALYLSULFATHIAZOLE [Concomitant]
     Active Substance: PHTHALYLSULFATHIAZOLE
     Route: 042
  528. PHTHALYLSULFATHIAZOLE [Concomitant]
     Active Substance: PHTHALYLSULFATHIAZOLE
  529. PHTHALYLSULFATHIAZOLE [Concomitant]
     Active Substance: PHTHALYLSULFATHIAZOLE
     Route: 048
  530. PHTHALYLSULFATHIAZOLE [Concomitant]
     Active Substance: PHTHALYLSULFATHIAZOLE
     Route: 048
  531. PHTHALYLSULFATHIAZOLE [Concomitant]
     Active Substance: PHTHALYLSULFATHIAZOLE
  532. PHTHALYLSULFATHIAZOLE [Concomitant]
     Active Substance: PHTHALYLSULFATHIAZOLE
     Route: 042
  533. PHTHALYLSULFATHIAZOLE [Concomitant]
     Active Substance: PHTHALYLSULFATHIAZOLE
  534. PHTHALYLSULFATHIAZOLE [Concomitant]
     Active Substance: PHTHALYLSULFATHIAZOLE
     Route: 058
  535. PHTHALYLSULFATHIAZOLE [Concomitant]
     Active Substance: PHTHALYLSULFATHIAZOLE
  536. PHTHALYLSULFATHIAZOLE [Concomitant]
     Active Substance: PHTHALYLSULFATHIAZOLE
     Route: 058
  537. PHTHALYLSULFATHIAZOLE [Concomitant]
     Active Substance: PHTHALYLSULFATHIAZOLE
     Route: 042
  538. PHTHALYLSULFATHIAZOLE [Concomitant]
     Active Substance: PHTHALYLSULFATHIAZOLE
  539. PHTHALYLSULFATHIAZOLE [Concomitant]
     Active Substance: PHTHALYLSULFATHIAZOLE
     Route: 048
  540. PHTHALYLSULFATHIAZOLE [Concomitant]
     Active Substance: PHTHALYLSULFATHIAZOLE
     Route: 048
  541. PHTHALYLSULFATHIAZOLE [Concomitant]
     Active Substance: PHTHALYLSULFATHIAZOLE
     Route: 058
  542. PHTHALYLSULFATHIAZOLE [Concomitant]
     Active Substance: PHTHALYLSULFATHIAZOLE
     Route: 048
  543. PHTHALYLSULFATHIAZOLE [Concomitant]
     Active Substance: PHTHALYLSULFATHIAZOLE
  544. PHTHALYLSULFATHIAZOLE [Concomitant]
     Active Substance: PHTHALYLSULFATHIAZOLE
     Route: 016
  545. PHTHALYLSULFATHIAZOLE [Concomitant]
     Active Substance: PHTHALYLSULFATHIAZOLE
     Route: 005
  546. HYDROXYCHLOROQUINE [Concomitant]
     Active Substance: HYDROXYCHLOROQUINE
     Indication: Rheumatoid arthritis
  547. HYDROXYCHLOROQUINE [Concomitant]
     Active Substance: HYDROXYCHLOROQUINE
     Route: 066
  548. HYDROXYCHLOROQUINE [Concomitant]
     Active Substance: HYDROXYCHLOROQUINE
     Route: 048
  549. HYDROXYCHLOROQUINE [Concomitant]
     Active Substance: HYDROXYCHLOROQUINE
  550. HYDROXYCHLOROQUINE [Concomitant]
     Active Substance: HYDROXYCHLOROQUINE
     Route: 048
  551. HYDROXYCHLOROQUINE [Concomitant]
     Active Substance: HYDROXYCHLOROQUINE
     Route: 048
  552. HYDROXYCHLOROQUINE [Concomitant]
     Active Substance: HYDROXYCHLOROQUINE
  553. HYDROXYCHLOROQUINE [Concomitant]
     Active Substance: HYDROXYCHLOROQUINE
  554. HYDROXYCHLOROQUINE [Concomitant]
     Active Substance: HYDROXYCHLOROQUINE
  555. HYDROXYCHLOROQUINE [Concomitant]
     Active Substance: HYDROXYCHLOROQUINE
     Route: 048
  556. HYDROXYCHLOROQUINE [Concomitant]
     Active Substance: HYDROXYCHLOROQUINE
     Route: 048
  557. HYDROXYCHLOROQUINE [Concomitant]
     Active Substance: HYDROXYCHLOROQUINE
  558. OXYCODONE TEREPHTHALATE [Concomitant]
     Active Substance: OXYCODONE TEREPHTHALATE
     Indication: Product used for unknown indication
  559. METHOTREXATE SODIUM [Concomitant]
     Active Substance: METHOTREXATE SODIUM
     Indication: Rheumatoid arthritis
     Route: 048
  560. METHOTREXATE SODIUM [Concomitant]
     Active Substance: METHOTREXATE SODIUM
     Route: 058
  561. METHOTREXATE SODIUM [Concomitant]
     Active Substance: METHOTREXATE SODIUM
  562. METHOTREXATE SODIUM [Concomitant]
     Active Substance: METHOTREXATE SODIUM
     Route: 048
  563. METHOTREXATE SODIUM [Concomitant]
     Active Substance: METHOTREXATE SODIUM
     Route: 048
  564. METHOTREXATE SODIUM [Concomitant]
     Active Substance: METHOTREXATE SODIUM
  565. METHOTREXATE SODIUM [Concomitant]
     Active Substance: METHOTREXATE SODIUM
     Route: 013
  566. METHOTREXATE SODIUM [Concomitant]
     Active Substance: METHOTREXATE SODIUM
     Route: 048
  567. METHOTREXATE SODIUM [Concomitant]
     Active Substance: METHOTREXATE SODIUM
     Route: 058
  568. METHOTREXATE SODIUM [Concomitant]
     Active Substance: METHOTREXATE SODIUM
     Route: 048
  569. METHOTREXATE SODIUM [Concomitant]
     Active Substance: METHOTREXATE SODIUM
     Route: 048
  570. METHOTREXATE SODIUM [Concomitant]
     Active Substance: METHOTREXATE SODIUM
     Route: 048
  571. METHOTREXATE SODIUM [Concomitant]
     Active Substance: METHOTREXATE SODIUM
     Route: 048
  572. METHOTREXATE SODIUM [Concomitant]
     Active Substance: METHOTREXATE SODIUM
  573. METHOTREXATE SODIUM [Concomitant]
     Active Substance: METHOTREXATE SODIUM
     Route: 048
  574. METHOTREXATE SODIUM [Concomitant]
     Active Substance: METHOTREXATE SODIUM
     Route: 048
  575. METHOTREXATE SODIUM [Concomitant]
     Active Substance: METHOTREXATE SODIUM
     Route: 013
  576. METHOTREXATE SODIUM [Concomitant]
     Active Substance: METHOTREXATE SODIUM
     Route: 013
  577. METHOTREXATE SODIUM [Concomitant]
     Active Substance: METHOTREXATE SODIUM
     Route: 058
  578. METHOTREXATE SODIUM [Concomitant]
     Active Substance: METHOTREXATE SODIUM
     Route: 048
  579. METHOTREXATE SODIUM [Concomitant]
     Active Substance: METHOTREXATE SODIUM
  580. METHOTREXATE SODIUM [Concomitant]
     Active Substance: METHOTREXATE SODIUM
     Route: 048
  581. METHOTREXATE SODIUM [Concomitant]
     Active Substance: METHOTREXATE SODIUM
     Route: 013
  582. METHOTREXATE SODIUM [Concomitant]
     Active Substance: METHOTREXATE SODIUM
     Route: 048
  583. METHOTREXATE SODIUM [Concomitant]
     Active Substance: METHOTREXATE SODIUM
     Route: 048
  584. METHOTREXATE SODIUM [Concomitant]
     Active Substance: METHOTREXATE SODIUM
  585. METHOTREXATE SODIUM [Concomitant]
     Active Substance: METHOTREXATE SODIUM
  586. METHOTREXATE SODIUM [Concomitant]
     Active Substance: METHOTREXATE SODIUM
     Route: 048
  587. DICLOFENAC SODIUM [Concomitant]
     Active Substance: DICLOFENAC SODIUM
     Indication: Product used for unknown indication
     Route: 047
  588. DICLOFENAC SODIUM [Concomitant]
     Active Substance: DICLOFENAC SODIUM
  589. DICLOFENAC SODIUM [Concomitant]
     Active Substance: DICLOFENAC SODIUM
  590. DICLOFENAC SODIUM [Concomitant]
     Active Substance: DICLOFENAC SODIUM
  591. DICLOFENAC SODIUM [Concomitant]
     Active Substance: DICLOFENAC SODIUM
  592. DICLOFENAC SODIUM [Concomitant]
     Active Substance: DICLOFENAC SODIUM
  593. DICLOFENAC SODIUM [Concomitant]
     Active Substance: DICLOFENAC SODIUM
  594. DICLOFENAC SODIUM [Concomitant]
     Active Substance: DICLOFENAC SODIUM
  595. DICLOFENAC SODIUM [Concomitant]
     Active Substance: DICLOFENAC SODIUM
     Route: 058
  596. DICLOFENAC SODIUM [Concomitant]
     Active Substance: DICLOFENAC SODIUM
  597. DICLOFENAC POTASSIUM [Concomitant]
     Active Substance: DICLOFENAC POTASSIUM
     Indication: Product used for unknown indication
  598. DICLOFENAC POTASSIUM [Concomitant]
     Active Substance: DICLOFENAC POTASSIUM
     Route: 048
  599. DICLOFENAC POTASSIUM [Concomitant]
     Active Substance: DICLOFENAC POTASSIUM
     Route: 047
  600. DICLOFENAC POTASSIUM [Concomitant]
     Active Substance: DICLOFENAC POTASSIUM
  601. DICLOFENAC POTASSIUM [Concomitant]
     Active Substance: DICLOFENAC POTASSIUM
  602. CORTISONE ACETATE [Concomitant]
     Active Substance: CORTISONE ACETATE
     Indication: Rheumatoid arthritis
     Route: 061
  603. CORTISONE ACETATE [Concomitant]
     Active Substance: CORTISONE ACETATE
  604. CORTISONE ACETATE [Concomitant]
     Active Substance: CORTISONE ACETATE
  605. CORTISONE ACETATE [Concomitant]
     Active Substance: CORTISONE ACETATE
     Route: 061
  606. CORTISONE ACETATE [Concomitant]
     Active Substance: CORTISONE ACETATE
     Route: 061
  607. CORTISONE ACETATE [Concomitant]
     Active Substance: CORTISONE ACETATE
  608. CORTISONE ACETATE [Concomitant]
     Active Substance: CORTISONE ACETATE
     Route: 061
  609. CORTISONE ACETATE [Concomitant]
     Active Substance: CORTISONE ACETATE
     Route: 061
  610. CORTISONE ACETATE [Concomitant]
     Active Substance: CORTISONE ACETATE
     Route: 048
  611. CORTISONE ACETATE [Concomitant]
     Active Substance: CORTISONE ACETATE
     Route: 061
  612. CORTISONE ACETATE [Concomitant]
     Active Substance: CORTISONE ACETATE
  613. CORTISONE ACETATE [Concomitant]
     Active Substance: CORTISONE ACETATE
  614. CORTISONE ACETATE [Concomitant]
     Active Substance: CORTISONE ACETATE
     Route: 003
  615. CORTISONE ACETATE [Concomitant]
     Active Substance: CORTISONE ACETATE
     Route: 061
  616. CORTISONE ACETATE [Concomitant]
     Active Substance: CORTISONE ACETATE
     Route: 048
  617. CORTISONE ACETATE [Concomitant]
     Active Substance: CORTISONE ACETATE
     Route: 061
  618. CORTISONE ACETATE [Concomitant]
     Active Substance: CORTISONE ACETATE
     Route: 058
  619. CORTISONE ACETATE [Concomitant]
     Active Substance: CORTISONE ACETATE
     Route: 061
  620. CORTISONE ACETATE [Concomitant]
     Active Substance: CORTISONE ACETATE
  621. CORTISONE ACETATE [Concomitant]
     Active Substance: CORTISONE ACETATE
     Route: 061
  622. CORTISONE ACETATE [Concomitant]
     Active Substance: CORTISONE ACETATE
     Route: 061
  623. CORTISONE ACETATE [Concomitant]
     Active Substance: CORTISONE ACETATE
     Route: 048
  624. CORTISONE ACETATE [Concomitant]
     Active Substance: CORTISONE ACETATE
  625. CORTISONE ACETATE [Concomitant]
     Active Substance: CORTISONE ACETATE
     Route: 058
  626. CORTISONE ACETATE [Concomitant]
     Active Substance: CORTISONE ACETATE
     Route: 061
  627. CORTISONE ACETATE [Concomitant]
     Active Substance: CORTISONE ACETATE
  628. CORTISONE ACETATE [Concomitant]
     Active Substance: CORTISONE ACETATE
  629. CORTISONE ACETATE [Concomitant]
     Active Substance: CORTISONE ACETATE
     Route: 061
  630. CORTISONE ACETATE [Concomitant]
     Active Substance: CORTISONE ACETATE
  631. CORTISONE ACETATE [Concomitant]
     Active Substance: CORTISONE ACETATE
  632. CORTISONE ACETATE [Concomitant]
     Active Substance: CORTISONE ACETATE
     Route: 048
  633. CORTISONE ACETATE [Concomitant]
     Active Substance: CORTISONE ACETATE
     Route: 061
  634. CORTISONE ACETATE [Concomitant]
     Active Substance: CORTISONE ACETATE
     Route: 061
  635. CORTISONE ACETATE [Concomitant]
     Active Substance: CORTISONE ACETATE
     Route: 058
  636. CORTISONE ACETATE [Concomitant]
     Active Substance: CORTISONE ACETATE
  637. CORTISONE ACETATE [Concomitant]
     Active Substance: CORTISONE ACETATE
  638. ACETAMINOPHEN AND CODEINE [Concomitant]
     Active Substance: ACETAMINOPHEN\CODEINE PHOSPHATE
     Indication: Product used for unknown indication
  639. ACETAMINOPHEN AND CODEINE [Concomitant]
     Active Substance: ACETAMINOPHEN\CODEINE PHOSPHATE
  640. ALLERCET-DC [CETIRIZINE HYDROCHLORIDE;PHENYLEPHRINE HYDROCHLORIDE] [Concomitant]
     Indication: Product used for unknown indication
  641. LEFLUNOMIDE [Concomitant]
     Active Substance: LEFLUNOMIDE
     Indication: Rheumatoid arthritis
  642. LEFLUNOMIDE [Concomitant]
     Active Substance: LEFLUNOMIDE
     Route: 048
  643. LEFLUNOMIDE [Concomitant]
     Active Substance: LEFLUNOMIDE
  644. LEFLUNOMIDE [Concomitant]
     Active Substance: LEFLUNOMIDE
     Route: 048
  645. LEFLUNOMIDE [Concomitant]
     Active Substance: LEFLUNOMIDE
  646. LEFLUNOMIDE [Concomitant]
     Active Substance: LEFLUNOMIDE
  647. LEFLUNOMIDE [Concomitant]
     Active Substance: LEFLUNOMIDE
  648. LEFLUNOMIDE [Concomitant]
     Active Substance: LEFLUNOMIDE
  649. CALCIUM GLUBIONATE [Concomitant]
     Active Substance: CALCIUM GLUBIONATE
     Indication: Product used for unknown indication
     Route: 048
  650. CETRIMIDE [Concomitant]
     Active Substance: CETRIMIDE
     Indication: Product used for unknown indication
  651. CHLORHEXIDINE [Concomitant]
     Active Substance: CHLORHEXIDINE
     Indication: Product used for unknown indication
     Route: 061
  652. CHLORHEXIDINE [Concomitant]
     Active Substance: CHLORHEXIDINE
  653. CHLORHEXIDINE [Concomitant]
     Active Substance: CHLORHEXIDINE
     Route: 048
  654. ACETAMINOPHEN\PROPOXYPHENE [Concomitant]
     Active Substance: ACETAMINOPHEN\PROPOXYPHENE
     Indication: Product used for unknown indication
  655. EMEND (FOSAPREPITANT DIMEGLUMINE) [Concomitant]
     Active Substance: FOSAPREPITANT DIMEGLUMINE
     Indication: Product used for unknown indication
  656. ERELZI [Concomitant]
     Active Substance: ETANERCEPT-SZZS
     Indication: Rheumatoid arthritis
  657. ERELZI [Concomitant]
     Active Substance: ETANERCEPT-SZZS
     Route: 058
  658. ERELZI [Concomitant]
     Active Substance: ETANERCEPT-SZZS
     Route: 058
  659. ERELZI [Concomitant]
     Active Substance: ETANERCEPT-SZZS
     Route: 048
  660. ERELZI [Concomitant]
     Active Substance: ETANERCEPT-SZZS
     Route: 058
  661. ERELZI [Concomitant]
     Active Substance: ETANERCEPT-SZZS
     Route: 058
  662. ERELZI [Concomitant]
     Active Substance: ETANERCEPT-SZZS
     Route: 058
  663. ERELZI [Concomitant]
     Active Substance: ETANERCEPT-SZZS
     Route: 048
  664. ERELZI [Concomitant]
     Active Substance: ETANERCEPT-SZZS
  665. FOSAVANCE [Concomitant]
     Active Substance: ALENDRONATE SODIUM\CHOLECALCIFEROL
     Indication: Product used for unknown indication
     Route: 048
  666. FOSAVANCE [Concomitant]
     Active Substance: ALENDRONATE SODIUM\CHOLECALCIFEROL
  667. HYDROCORTISONE ACETATE [Concomitant]
     Active Substance: HYDROCORTISONE ACETATE
     Indication: Rheumatoid arthritis
     Route: 003
  668. HYDROCORTISONE ACETATE [Concomitant]
     Active Substance: HYDROCORTISONE ACETATE
     Route: 058
  669. HYDROCORTISONE ACETATE [Concomitant]
     Active Substance: HYDROCORTISONE ACETATE
     Route: 048
  670. HYDROXYCHLOROQUINE SULFATE [Concomitant]
     Active Substance: HYDROXYCHLOROQUINE SULFATE
     Indication: Systemic lupus erythematosus
  671. HYDROXYCHLOROQUINE SULFATE [Concomitant]
     Active Substance: HYDROXYCHLOROQUINE SULFATE
     Indication: Rheumatoid arthritis
  672. HYDROXYCHLOROQUINE SULFATE [Concomitant]
     Active Substance: HYDROXYCHLOROQUINE SULFATE
     Route: 048
  673. HYDROXYCHLOROQUINE SULFATE [Concomitant]
     Active Substance: HYDROXYCHLOROQUINE SULFATE
  674. HYDROXYCHLOROQUINE SULFATE [Concomitant]
     Active Substance: HYDROXYCHLOROQUINE SULFATE
  675. HYDROXYCHLOROQUINE SULFATE [Concomitant]
     Active Substance: HYDROXYCHLOROQUINE SULFATE
  676. HYDROXYCHLOROQUINE SULFATE [Concomitant]
     Active Substance: HYDROXYCHLOROQUINE SULFATE
     Route: 048
  677. HYDROXYCHLOROQUINE SULFATE [Concomitant]
     Active Substance: HYDROXYCHLOROQUINE SULFATE
     Route: 066
  678. HYDROXYCHLOROQUINE SULFATE [Concomitant]
     Active Substance: HYDROXYCHLOROQUINE SULFATE
     Route: 048
  679. HYDROXYCHLOROQUINE SULFATE [Concomitant]
     Active Substance: HYDROXYCHLOROQUINE SULFATE
     Route: 048
  680. HYDROXYCHLOROQUINE SULFATE [Concomitant]
     Active Substance: HYDROXYCHLOROQUINE SULFATE
  681. HYDROXYCHLOROQUINE SULFATE [Concomitant]
     Active Substance: HYDROXYCHLOROQUINE SULFATE
     Route: 066
  682. HYDROXYCHLOROQUINE SULFATE [Concomitant]
     Active Substance: HYDROXYCHLOROQUINE SULFATE
     Route: 048
  683. HYDROXYCHLOROQUINE SULFATE [Concomitant]
     Active Substance: HYDROXYCHLOROQUINE SULFATE
  684. HYDROXYCHLOROQUINE SULFATE [Concomitant]
     Active Substance: HYDROXYCHLOROQUINE SULFATE
     Route: 048
  685. HYDROXYCHLOROQUINE SULFATE [Concomitant]
     Active Substance: HYDROXYCHLOROQUINE SULFATE
  686. HYDROXYCHLOROQUINE SULFATE [Concomitant]
     Active Substance: HYDROXYCHLOROQUINE SULFATE
     Route: 058
  687. HYDROXYCHLOROQUINE SULFATE [Concomitant]
     Active Substance: HYDROXYCHLOROQUINE SULFATE
  688. HYDROXYCHLOROQUINE SULFATE [Concomitant]
     Active Substance: HYDROXYCHLOROQUINE SULFATE
  689. HYDROXYCHLOROQUINE SULFATE [Concomitant]
     Active Substance: HYDROXYCHLOROQUINE SULFATE
     Route: 005
  690. HYDROXYCHLOROQUINE SULFATE [Concomitant]
     Active Substance: HYDROXYCHLOROQUINE SULFATE
  691. HYDROXYCHLOROQUINE SULFATE [Concomitant]
     Active Substance: HYDROXYCHLOROQUINE SULFATE
     Route: 048
  692. HYDROXYCHLOROQUINE SULFATE [Concomitant]
     Active Substance: HYDROXYCHLOROQUINE SULFATE
     Route: 066
  693. LEFLUNOMIDE [Concomitant]
     Active Substance: LEFLUNOMIDE
     Indication: Rheumatoid arthritis
     Route: 048
  694. LEFLUNOMIDE [Concomitant]
     Active Substance: LEFLUNOMIDE
     Route: 048
  695. LEFLUNOMIDE [Concomitant]
     Active Substance: LEFLUNOMIDE
  696. LEFLUNOMIDE [Concomitant]
     Active Substance: LEFLUNOMIDE
  697. LEFLUNOMIDE [Concomitant]
     Active Substance: LEFLUNOMIDE
  698. LEFLUNOMIDE [Concomitant]
     Active Substance: LEFLUNOMIDE
     Route: 048
  699. LEFLUNOMIDE [Concomitant]
     Active Substance: LEFLUNOMIDE
  700. LEFLUNOMIDE [Concomitant]
     Active Substance: LEFLUNOMIDE
     Route: 048
  701. LEFLUNOMIDE [Concomitant]
     Active Substance: LEFLUNOMIDE
     Route: 048
  702. LEFLUNOMIDE [Concomitant]
     Active Substance: LEFLUNOMIDE
  703. LEFLUNOMIDE [Concomitant]
     Active Substance: LEFLUNOMIDE
  704. LEFLUNOMIDE [Concomitant]
     Active Substance: LEFLUNOMIDE
     Route: 048
  705. LEFLUNOMIDE [Concomitant]
     Active Substance: LEFLUNOMIDE
  706. LEFLUNOMIDE [Concomitant]
     Active Substance: LEFLUNOMIDE
  707. FLUMETHASONE PIVALATE [Concomitant]
     Active Substance: FLUMETHASONE PIVALATE
     Indication: Rheumatoid arthritis
     Route: 058
  708. FLUMETHASONE PIVALATE [Concomitant]
     Active Substance: FLUMETHASONE PIVALATE
  709. FLUMETHASONE PIVALATE [Concomitant]
     Active Substance: FLUMETHASONE PIVALATE
     Route: 003
  710. FLUMETHASONE PIVALATE [Concomitant]
     Active Substance: FLUMETHASONE PIVALATE
     Route: 058
  711. FLUMETHASONE PIVALATE [Concomitant]
     Active Substance: FLUMETHASONE PIVALATE
  712. METHYLPREDNISOLONE SODIUM SUCCINATE [Concomitant]
     Active Substance: METHYLPREDNISOLONE SODIUM SUCCINATE
     Indication: Rheumatoid arthritis
  713. METHYLPREDNISOLONE SODIUM SUCCINATE [Concomitant]
     Active Substance: METHYLPREDNISOLONE SODIUM SUCCINATE
  714. PERIOGARD [Concomitant]
     Active Substance: CHLORHEXIDINE GLUCONATE
     Indication: Rheumatoid arthritis
     Route: 002
  715. PERIOGARD [Concomitant]
     Active Substance: CHLORHEXIDINE GLUCONATE
  716. OXYCODONE AND ACETAMINOPHEN [Concomitant]
     Active Substance: ACETAMINOPHEN\OXYCODONE HYDROCHLORIDE
     Indication: Product used for unknown indication
  717. REMICADE [Concomitant]
     Active Substance: INFLIXIMAB
     Indication: Rheumatoid arthritis
  718. REMICADE [Concomitant]
     Active Substance: INFLIXIMAB
     Indication: Psoriatic arthropathy
  719. REMICADE [Concomitant]
     Active Substance: INFLIXIMAB
     Indication: Psoriasis
  720. REMICADE [Concomitant]
     Active Substance: INFLIXIMAB
     Indication: Crohn^s disease
  721. REMICADE [Concomitant]
     Active Substance: INFLIXIMAB
     Indication: Ankylosing spondylitis
     Route: 042
  722. REMICADE [Concomitant]
     Active Substance: INFLIXIMAB
     Route: 058
  723. REMICADE [Concomitant]
     Active Substance: INFLIXIMAB
  724. REMICADE [Concomitant]
     Active Substance: INFLIXIMAB
  725. REMICADE [Concomitant]
     Active Substance: INFLIXIMAB
  726. REMICADE [Concomitant]
     Active Substance: INFLIXIMAB
     Route: 042
  727. REMICADE [Concomitant]
     Active Substance: INFLIXIMAB
     Route: 048
  728. REMICADE [Concomitant]
     Active Substance: INFLIXIMAB
     Route: 042
  729. REMICADE [Concomitant]
     Active Substance: INFLIXIMAB
  730. REMICADE [Concomitant]
     Active Substance: INFLIXIMAB
     Route: 042
  731. REMICADE [Concomitant]
     Active Substance: INFLIXIMAB
     Route: 040
  732. REMICADE [Concomitant]
     Active Substance: INFLIXIMAB
     Route: 040
  733. TOPICORT [Concomitant]
     Active Substance: DESOXIMETASONE
     Indication: Rheumatoid arthritis
     Route: 003
  734. TOPICORT [Concomitant]
     Active Substance: DESOXIMETASONE
     Route: 058
  735. TOPICORT [Concomitant]
     Active Substance: DESOXIMETASONE
     Route: 048
  736. TOPICORT [Concomitant]
     Active Substance: DESOXIMETASONE
  737. VITAMIN C [Concomitant]
     Active Substance: ASCORBIC ACID
     Indication: Product used for unknown indication
  738. PREDNISONE [Concomitant]
     Active Substance: PREDNISONE
     Indication: Rheumatoid arthritis
     Route: 048
  739. PREDNISONE [Concomitant]
     Active Substance: PREDNISONE
  740. CAFFEINE;DIHYDROCODEINE;PARACETAMOL [Concomitant]
     Indication: Product used for unknown indication
  741. ALENDRONATE SODIUM\CHOLECALCIFEROL [Concomitant]
     Active Substance: ALENDRONATE SODIUM\CHOLECALCIFEROL
     Indication: Rheumatoid arthritis
  742. ALENDRONATE SODIUM\CHOLECALCIFEROL [Concomitant]
     Active Substance: ALENDRONATE SODIUM\CHOLECALCIFEROL
     Route: 048
  743. ALENDRONATE SODIUM\CHOLECALCIFEROL [Concomitant]
     Active Substance: ALENDRONATE SODIUM\CHOLECALCIFEROL
  744. ALENDRONIC ACID [Concomitant]
     Active Substance: ALENDRONIC ACID
     Indication: Rheumatoid arthritis
  745. ALENDRONIC ACID [Concomitant]
     Active Substance: ALENDRONIC ACID
     Route: 048
  746. APREMILAST [Concomitant]
     Active Substance: APREMILAST
     Indication: Product used for unknown indication
  747. APREMILAST [Concomitant]
     Active Substance: APREMILAST
  748. APREMILAST [Concomitant]
     Active Substance: APREMILAST
  749. APREPITANT [Concomitant]
     Active Substance: APREPITANT
     Indication: Product used for unknown indication
  750. APREPITANT [Concomitant]
     Active Substance: APREPITANT
     Route: 042
  751. APREPITANT [Concomitant]
     Active Substance: APREPITANT
  752. APREPITANT [Concomitant]
     Active Substance: APREPITANT
     Route: 048
  753. APREPITANT [Concomitant]
     Active Substance: APREPITANT
  754. APREPITANT [Concomitant]
     Active Substance: APREPITANT
  755. APREPITANT [Concomitant]
     Active Substance: APREPITANT
     Route: 048
  756. APREPITANT [Concomitant]
     Active Substance: APREPITANT
  757. CERTOLIZUMAB PEGOL [Concomitant]
     Active Substance: CERTOLIZUMAB PEGOL
     Indication: Rheumatoid arthritis
     Route: 048
  758. CERTOLIZUMAB PEGOL [Concomitant]
     Active Substance: CERTOLIZUMAB PEGOL
     Route: 058
  759. CERTOLIZUMAB PEGOL [Concomitant]
     Active Substance: CERTOLIZUMAB PEGOL
  760. GOLIMUMAB [Concomitant]
     Active Substance: GOLIMUMAB
     Indication: Rheumatoid arthritis
     Route: 058
  761. GOLIMUMAB [Concomitant]
     Active Substance: GOLIMUMAB
     Indication: Prostatic specific antigen
  762. GOLIMUMAB [Concomitant]
     Active Substance: GOLIMUMAB
     Route: 058
  763. GOLIMUMAB [Concomitant]
     Active Substance: GOLIMUMAB
     Route: 058
  764. GOLIMUMAB [Concomitant]
     Active Substance: GOLIMUMAB
     Route: 042
  765. GOLIMUMAB [Concomitant]
     Active Substance: GOLIMUMAB
     Route: 052
  766. GOLIMUMAB [Concomitant]
     Active Substance: GOLIMUMAB
  767. CETIRIZINE HYDROCHLORIDE [Concomitant]
     Active Substance: CETIRIZINE HYDROCHLORIDE
     Indication: Rheumatoid arthritis
  768. CETIRIZINE HYDROCHLORIDE [Concomitant]
     Active Substance: CETIRIZINE HYDROCHLORIDE
  769. CETIRIZINE HYDROCHLORIDE [Concomitant]
     Active Substance: CETIRIZINE HYDROCHLORIDE
  770. CETIRIZINE HYDROCHLORIDE [Concomitant]
     Active Substance: CETIRIZINE HYDROCHLORIDE
     Route: 048
  771. CETIRIZINE HYDROCHLORIDE [Concomitant]
     Active Substance: CETIRIZINE HYDROCHLORIDE
     Route: 042
  772. CETIRIZINE HYDROCHLORIDE [Concomitant]
     Active Substance: CETIRIZINE HYDROCHLORIDE
  773. CETIRIZINE HYDROCHLORIDE [Concomitant]
     Active Substance: CETIRIZINE HYDROCHLORIDE
  774. CETIRIZINE HYDROCHLORIDE [Concomitant]
     Active Substance: CETIRIZINE HYDROCHLORIDE
     Route: 048
  775. CETIRIZINE HYDROCHLORIDE [Concomitant]
     Active Substance: CETIRIZINE HYDROCHLORIDE
     Route: 048
  776. CETIRIZINE HYDROCHLORIDE [Concomitant]
     Active Substance: CETIRIZINE HYDROCHLORIDE
  777. CETIRIZINE HYDROCHLORIDE [Concomitant]
     Active Substance: CETIRIZINE HYDROCHLORIDE
     Route: 042
  778. CETIRIZINE HYDROCHLORIDE [Concomitant]
     Active Substance: CETIRIZINE HYDROCHLORIDE
  779. CETIRIZINE HYDROCHLORIDE [Concomitant]
     Active Substance: CETIRIZINE HYDROCHLORIDE
     Route: 048
  780. CETIRIZINE HYDROCHLORIDE [Concomitant]
     Active Substance: CETIRIZINE HYDROCHLORIDE
     Route: 048
  781. CETIRIZINE HYDROCHLORIDE [Concomitant]
     Active Substance: CETIRIZINE HYDROCHLORIDE
     Route: 048
  782. CETIRIZINE HYDROCHLORIDE [Concomitant]
     Active Substance: CETIRIZINE HYDROCHLORIDE
     Route: 048
  783. CETIRIZINE HYDROCHLORIDE [Concomitant]
     Active Substance: CETIRIZINE HYDROCHLORIDE
  784. CETIRIZINE HYDROCHLORIDE [Concomitant]
     Active Substance: CETIRIZINE HYDROCHLORIDE
     Route: 048
  785. CETIRIZINE HYDROCHLORIDE [Concomitant]
     Active Substance: CETIRIZINE HYDROCHLORIDE
     Route: 048
  786. CETIRIZINE HYDROCHLORIDE [Concomitant]
     Active Substance: CETIRIZINE HYDROCHLORIDE
  787. CETIRIZINE HYDROCHLORIDE [Concomitant]
     Active Substance: CETIRIZINE HYDROCHLORIDE
  788. HYDROCORTISONE [Concomitant]
     Active Substance: HYDROCORTISONE
     Indication: Rheumatoid arthritis
     Route: 058
  789. ISOPROPYL ALCOHOL [Concomitant]
     Active Substance: ISOPROPYL ALCOHOL
     Indication: Product used for unknown indication
  790. MARVELON [Concomitant]
     Active Substance: DESOGESTREL\ETHINYL ESTRADIOL
     Indication: Product used for unknown indication
  791. MARVELON [Concomitant]
     Active Substance: DESOGESTREL\ETHINYL ESTRADIOL
     Indication: Product used for unknown indication
  792. PANTOPRAZOLE SODIUM [Concomitant]
     Active Substance: PANTOPRAZOLE SODIUM
     Indication: Product used for unknown indication
  793. PANTOPRAZOLE SODIUM [Concomitant]
     Active Substance: PANTOPRAZOLE SODIUM
     Indication: Product used for unknown indication
  794. PSEUDOEPHEDRINE HYDROCHLORIDE [Concomitant]
     Active Substance: PSEUDOEPHEDRINE HYDROCHLORIDE
     Indication: Rheumatoid arthritis
  795. PSEUDOEPHEDRINE HYDROCHLORIDE [Concomitant]
     Active Substance: PSEUDOEPHEDRINE HYDROCHLORIDE
  796. PSEUDOEPHEDRINE HYDROCHLORIDE [Concomitant]
     Active Substance: PSEUDOEPHEDRINE HYDROCHLORIDE
  797. PSEUDOEPHEDRINE HYDROCHLORIDE [Concomitant]
     Active Substance: PSEUDOEPHEDRINE HYDROCHLORIDE
  798. PSEUDOEPHEDRINE HYDROCHLORIDE [Concomitant]
     Active Substance: PSEUDOEPHEDRINE HYDROCHLORIDE
  799. CETIRIZINE HYDROCHLORIDE [Concomitant]
     Active Substance: CETIRIZINE HYDROCHLORIDE
     Indication: Rheumatoid arthritis
  800. CETIRIZINE HYDROCHLORIDE [Concomitant]
     Active Substance: CETIRIZINE HYDROCHLORIDE
  801. TOCILIZUMAB [Concomitant]
     Active Substance: TOCILIZUMAB
     Indication: Rheumatoid arthritis
  802. TOCILIZUMAB [Concomitant]
     Active Substance: TOCILIZUMAB
     Route: 042
  803. TOCILIZUMAB [Concomitant]
     Active Substance: TOCILIZUMAB
     Route: 040
  804. TOCILIZUMAB [Concomitant]
     Active Substance: TOCILIZUMAB
     Route: 058
  805. TOFACITINIB CITRATE [Concomitant]
     Active Substance: TOFACITINIB CITRATE
     Indication: Product used for unknown indication
  806. TOFACITINIB CITRATE [Concomitant]
     Active Substance: TOFACITINIB CITRATE
  807. TOFACITINIB CITRATE [Concomitant]
     Active Substance: TOFACITINIB CITRATE
  808. TYLENOL [Concomitant]
     Active Substance: ACETAMINOPHEN
     Indication: Product used for unknown indication
  809. USTEKINUMAB [Concomitant]
     Active Substance: USTEKINUMAB
     Indication: Psoriatic arthropathy
     Route: 058
  810. VITAMIN D3 [Concomitant]
     Active Substance: CHOLECALCIFEROL
     Indication: Product used for unknown indication
  811. ZOPICLONE [Concomitant]
     Active Substance: ZOPICLONE
     Indication: Product used for unknown indication
  812. CELECOXIB [Concomitant]
     Active Substance: CELECOXIB
     Indication: Product used for unknown indication
  813. CELECOXIB [Concomitant]
     Active Substance: CELECOXIB
  814. CELECOXIB [Concomitant]
     Active Substance: CELECOXIB
  815. CELECOXIB [Concomitant]
     Active Substance: CELECOXIB
  816. AIMOVIG [Concomitant]
     Active Substance: ERENUMAB-AOOE
     Indication: Migraine
  817. AIMOVIG [Concomitant]
     Active Substance: ERENUMAB-AOOE
  818. ALENDRONATE SODIUM [Concomitant]
     Active Substance: ALENDRONATE SODIUM
     Indication: Rheumatoid arthritis
     Route: 048
  819. ALENDRONATE SODIUM [Concomitant]
     Active Substance: ALENDRONATE SODIUM
  820. ATOMOXETINE HYDROCHLORIDE [Concomitant]
     Active Substance: ATOMOXETINE HYDROCHLORIDE
     Indication: Migraine
  821. ATOMOXETINE HYDROCHLORIDE [Concomitant]
     Active Substance: ATOMOXETINE HYDROCHLORIDE
  822. ATOMOXETINE HYDROCHLORIDE [Concomitant]
     Active Substance: ATOMOXETINE HYDROCHLORIDE
  823. ATOMOXETINE HYDROCHLORIDE [Concomitant]
     Active Substance: ATOMOXETINE HYDROCHLORIDE
  824. ATOMOXETINE HYDROCHLORIDE [Concomitant]
     Active Substance: ATOMOXETINE HYDROCHLORIDE
  825. BERINERT [Concomitant]
     Active Substance: HUMAN C1-ESTERASE INHIBITOR
     Indication: Product used for unknown indication
  826. BETAMETHASONE [Concomitant]
     Active Substance: BETAMETHASONE
     Indication: Product used for unknown indication
  827. BOTULINUM TOXIN TYPE A [Concomitant]
     Active Substance: BOTULINUM TOXIN TYPE A
     Indication: Product used for unknown indication
  828. BOTULINUM TOXIN TYPE A [Concomitant]
     Active Substance: BOTULINUM TOXIN TYPE A
  829. BUPRENORPHINE [Concomitant]
     Active Substance: BUPRENORPHINE
     Indication: Product used for unknown indication
  830. BUTRANS [Concomitant]
     Active Substance: BUPRENORPHINE
     Indication: Product used for unknown indication
  831. CALCIUM ASCORBATE [Concomitant]
     Active Substance: CALCIUM ASCORBATE
     Indication: Product used for unknown indication
  832. CALCIUM GLUBIONATE [Concomitant]
     Active Substance: CALCIUM GLUBIONATE
     Indication: Product used for unknown indication
  833. CALCIUM GLUCONATE [Concomitant]
     Active Substance: CALCIUM GLUCONATE
     Indication: Product used for unknown indication
  834. CANDESARTAN [Concomitant]
     Active Substance: CANDESARTAN
     Indication: Migraine
     Route: 048
  835. CHLORHEXIDINE GLUCONATE [Concomitant]
     Active Substance: CHLORHEXIDINE GLUCONATE
     Indication: Rheumatoid arthritis
  836. CYCLOBENZAPRINE [Concomitant]
     Active Substance: CYCLOBENZAPRINE
     Indication: Product used for unknown indication
  837. DICLOFENAC DIETHYLAMINE [Concomitant]
     Active Substance: DICLOFENAC DIETHYLAMINE
     Indication: Product used for unknown indication
  838. DOMPERIDONE MALEATE [Concomitant]
     Active Substance: DOMPERIDONE MALEATE
     Indication: Product used for unknown indication
  839. FINACEA [Concomitant]
     Active Substance: AZELAIC ACID
     Indication: Product used for unknown indication
  840. FLUMETHASONE [Concomitant]
     Active Substance: FLUMETHASONE
     Indication: Product used for unknown indication
  841. GOLD [Concomitant]
     Active Substance: GOLD
     Indication: Rheumatoid arthritis
  842. GOLD SODIUM THIOMALATE [Concomitant]
     Active Substance: GOLD SODIUM THIOMALATE
     Indication: Product used for unknown indication
     Route: 030
  843. HYDROMORPHONE [Concomitant]
     Active Substance: HYDROMORPHONE
     Indication: Product used for unknown indication
  844. LAMICTAL [Concomitant]
     Active Substance: LAMOTRIGINE
     Indication: Product used for unknown indication
     Route: 048
  845. LAMICTAL [Concomitant]
     Active Substance: LAMOTRIGINE
     Route: 048
  846. LAMICTAL [Concomitant]
     Active Substance: LAMOTRIGINE
     Route: 048
  847. LAMOTRIGINE [Concomitant]
     Active Substance: LAMOTRIGINE
     Indication: Product used for unknown indication
     Route: 048
  848. LAMOTRIGINE [Concomitant]
     Active Substance: LAMOTRIGINE
     Route: 048
  849. LAMOTRIGINE [Concomitant]
     Active Substance: LAMOTRIGINE
     Route: 048
  850. LEVOMILNACIPRAN [Concomitant]
     Active Substance: LEVOMILNACIPRAN
     Indication: Product used for unknown indication
  851. MAGNESIUM CITRATE [Concomitant]
     Active Substance: MAGNESIUM CITRATE
     Indication: Product used for unknown indication
  852. MYRBETRIQ [Concomitant]
     Active Substance: MIRABEGRON
     Indication: Product used for unknown indication
  853. MYRBETRIQ [Concomitant]
     Active Substance: MIRABEGRON
     Route: 048
  854. MYRBETRIQ [Concomitant]
     Active Substance: MIRABEGRON
     Dosage: TABLET (EXTENDED- RELEASE)
  855. MYRBETRIQ [Concomitant]
     Active Substance: MIRABEGRON
     Dosage: TABLET (EXTENDED- RELEASE)
     Route: 048
  856. NAPROXEN [Concomitant]
     Active Substance: NAPROXEN
     Indication: Product used for unknown indication
  857. NUCALA [Concomitant]
     Active Substance: MEPOLIZUMAB
     Indication: Product used for unknown indication
  858. PANTOPRAZOLE [Concomitant]
     Active Substance: PANTOPRAZOLE
     Indication: Product used for unknown indication
  859. PHENYLEPHRINE HYDROCHLORIDE [Concomitant]
     Active Substance: PHENYLEPHRINE HYDROCHLORIDE
     Indication: Rheumatoid arthritis
  860. PHTHALYLSULFATHIAZOLE [Concomitant]
     Active Substance: PHTHALYLSULFATHIAZOLE
     Indication: Rheumatoid arthritis
     Route: 048
  861. PHTHALYLSULFATHIAZOLE [Concomitant]
     Active Substance: PHTHALYLSULFATHIAZOLE
     Route: 048
  862. RANITIDINE HYDROCHLORIDE [Concomitant]
     Active Substance: RANITIDINE HYDROCHLORIDE
     Indication: Rheumatoid arthritis
  863. DIETARY SUPPLEMENT\HERBALS [Concomitant]
     Active Substance: DIETARY SUPPLEMENT\HERBALS
     Indication: Product used for unknown indication
  864. GOLD SODIUM THIOMALATE [Concomitant]
     Active Substance: GOLD SODIUM THIOMALATE
     Indication: Product used for unknown indication
  865. TOFACITINIB [Concomitant]
     Active Substance: TOFACITINIB
     Indication: Rheumatoid arthritis
  866. TOPIRAMATE [Concomitant]
     Active Substance: TOPIRAMATE
     Indication: Rheumatoid arthritis
  867. TOPIRAMATE [Concomitant]
     Active Substance: TOPIRAMATE
     Indication: Migraine
  868. TOPIRAMATE [Concomitant]
     Active Substance: TOPIRAMATE
  869. ERENUMAB [Concomitant]
     Active Substance: ERENUMAB
     Indication: Migraine
  870. MILK OF MAGNESIA [Concomitant]
     Active Substance: MAGNESIUM HYDROXIDE
     Indication: Product used for unknown indication
  871. CETIRIZINE [Concomitant]
     Active Substance: CETIRIZINE HYDROCHLORIDE
     Indication: Rheumatoid arthritis
  872. CETIRIZINE [Concomitant]
     Active Substance: CETIRIZINE HYDROCHLORIDE
  873. CETIRIZINE [Concomitant]
     Active Substance: CETIRIZINE HYDROCHLORIDE
     Route: 040
  874. CETIRIZINE [Concomitant]
     Active Substance: CETIRIZINE HYDROCHLORIDE
  875. CETIRIZINE [Concomitant]
     Active Substance: CETIRIZINE HYDROCHLORIDE
     Route: 048
  876. CETIRIZINE [Concomitant]
     Active Substance: CETIRIZINE HYDROCHLORIDE
     Route: 040
  877. CETIRIZINE [Concomitant]
     Active Substance: CETIRIZINE HYDROCHLORIDE
     Route: 048
  878. CETIRIZINE [Concomitant]
     Active Substance: CETIRIZINE HYDROCHLORIDE
     Route: 048
  879. CETIRIZINE [Concomitant]
     Active Substance: CETIRIZINE HYDROCHLORIDE
     Route: 048
  880. CETIRIZINE [Concomitant]
     Active Substance: CETIRIZINE HYDROCHLORIDE
  881. HYRIMOZ [Concomitant]
     Active Substance: ADALIMUMAB-ADAZ
     Indication: Rheumatoid arthritis
     Route: 058
  882. HYRIMOZ [Concomitant]
     Active Substance: ADALIMUMAB-ADAZ
  883. LEFLUNOMIDE [Concomitant]
     Active Substance: LEFLUNOMIDE
     Indication: Rheumatoid arthritis
  884. LEFLUNOMIDE [Concomitant]
     Active Substance: LEFLUNOMIDE
     Route: 048
  885. MYCOPHENOLATE MOFETIL [Concomitant]
     Active Substance: MYCOPHENOLATE MOFETIL
     Indication: Product used for unknown indication
  886. DICLOFENAC [Concomitant]
     Active Substance: DICLOFENAC
     Indication: Product used for unknown indication
  887. CETIRIZINE HYDROCHLORIDE AND PSEUDOEPHEDRINE HYDROCHLORIDE [Concomitant]
     Active Substance: CETIRIZINE HYDROCHLORIDE\PSEUDOEPHEDRINE HYDROCHLORIDE
     Indication: Rheumatoid arthritis
  888. CETIRIZINE HYDROCHLORIDE AND PSEUDOEPHEDRINE HYDROCHLORIDE [Concomitant]
     Active Substance: CETIRIZINE HYDROCHLORIDE\PSEUDOEPHEDRINE HYDROCHLORIDE
  889. CETIRIZINE HYDROCHLORIDE AND PSEUDOEPHEDRINE HYDROCHLORIDE [Concomitant]
     Active Substance: CETIRIZINE HYDROCHLORIDE\PSEUDOEPHEDRINE HYDROCHLORIDE
  890. CETIRIZINE HYDROCHLORIDE AND PSEUDOEPHEDRINE HYDROCHLORIDE [Concomitant]
     Active Substance: CETIRIZINE HYDROCHLORIDE\PSEUDOEPHEDRINE HYDROCHLORIDE
     Route: 048
  891. CETIRIZINE HYDROCHLORIDE AND PSEUDOEPHEDRINE HYDROCHLORIDE [Concomitant]
     Active Substance: CETIRIZINE HYDROCHLORIDE\PSEUDOEPHEDRINE HYDROCHLORIDE

REACTIONS (3)
  - Death [Fatal]
  - Prescribed underdose [Unknown]
  - Off label use [Unknown]
